FAERS Safety Report 24434064 (Version 8)
Quarter: 2025Q2

REPORT INFORMATION
  Report Type: Spontaneous
  Country: CA (occurrence: CA)
  Receive Date: 20241014
  Receipt Date: 20250618
  Transmission Date: 20250716
  Serious: Yes (Other)
  Sender: MYLAN
  Company Number: CA-MYLANLABS-2024M1082654

PATIENT
  Age: 53 Year
  Sex: Male

DRUGS (905)
  1. LEVOTHYROXINE [Suspect]
     Active Substance: LEVOTHYROXINE
     Indication: Product used for unknown indication
  2. LEVOTHYROXINE [Suspect]
     Active Substance: LEVOTHYROXINE
     Dosage: 100 MILLIGRAM, QD (1 DOSE PER DAY)
  3. EPINEPHRINE [Suspect]
     Active Substance: EPINEPHRINE
     Indication: Product used for unknown indication
  4. GABAPENTIN [Suspect]
     Active Substance: GABAPENTIN
     Indication: Product used for unknown indication
  5. GABAPENTIN [Suspect]
     Active Substance: GABAPENTIN
     Dosage: 900 MILLIGRAM, QD (300 MILLIGRAM, 3 DOSE PER 1 D)
  6. SYNTHROID [Suspect]
     Active Substance: LEVOTHYROXINE SODIUM
     Indication: Product used for unknown indication
  7. ESCITALOPRAM [Suspect]
     Active Substance: ESCITALOPRAM OXALATE
     Indication: Product used for unknown indication
  8. ESCITALOPRAM [Suspect]
     Active Substance: ESCITALOPRAM OXALATE
     Dosage: 10 MILLIGRAM, QD
  9. METFORMIN [Suspect]
     Active Substance: METFORMIN HYDROCHLORIDE
     Indication: Product used for unknown indication
  10. METFORMIN [Suspect]
     Active Substance: METFORMIN HYDROCHLORIDE
     Dosage: 1000 MILLIGRAM, QD (500 MILLIGRAM, 2 DOSE PER 1 D)
  11. BUDESONIDE [Suspect]
     Active Substance: BUDESONIDE
     Indication: Colitis ulcerative
  12. BUDESONIDE [Suspect]
     Active Substance: BUDESONIDE
  13. BUDESONIDE [Suspect]
     Active Substance: BUDESONIDE
  14. BUDESONIDE [Suspect]
     Active Substance: BUDESONIDE
     Dosage: 1 DOSAGE FORM, QD
     Dates: start: 201707
  15. BUDESONIDE [Suspect]
     Active Substance: BUDESONIDE
  16. BUDESONIDE [Suspect]
     Active Substance: BUDESONIDE
     Dosage: 8 DOSAGE FORM, QD
     Dates: start: 201707
  17. BUDESONIDE [Suspect]
     Active Substance: BUDESONIDE
     Dosage: 1 DOSAGE FORM, QD (1 EVERY 1 DAYS)
  18. BUDESONIDE [Suspect]
     Active Substance: BUDESONIDE
     Dosage: 8 DOSAGE FORM, QD (1 EVERY 1 DAYS)
  19. BUDESONIDE [Suspect]
     Active Substance: BUDESONIDE
     Dosage: UNK, QD (1 EVERY 1 DAYS)
  20. BUDESONIDE [Suspect]
     Active Substance: BUDESONIDE
  21. BUDESONIDE [Suspect]
     Active Substance: BUDESONIDE
  22. BUDESONIDE [Suspect]
     Active Substance: BUDESONIDE
  23. BUDESONIDE [Suspect]
     Active Substance: BUDESONIDE
     Dosage: UNK, QID
  24. BUDESONIDE [Suspect]
     Active Substance: BUDESONIDE
  25. BUDESONIDE [Suspect]
     Active Substance: BUDESONIDE
  26. BUDESONIDE [Suspect]
     Active Substance: BUDESONIDE
  27. BUDESONIDE [Suspect]
     Active Substance: BUDESONIDE
     Dosage: UNK, QID
  28. BUDESONIDE [Suspect]
     Active Substance: BUDESONIDE
  29. BUDESONIDE [Suspect]
     Active Substance: BUDESONIDE
  30. BUDESONIDE [Suspect]
     Active Substance: BUDESONIDE
     Dosage: 4 DOSAGE FORM, QD (1 DOSAGE FORM, QD)
     Dates: start: 201707
  31. BUDESONIDE [Suspect]
     Active Substance: BUDESONIDE
  32. BUDESONIDE [Suspect]
     Active Substance: BUDESONIDE
  33. BUDESONIDE [Suspect]
     Active Substance: BUDESONIDE
  34. BUDESONIDE [Suspect]
     Active Substance: BUDESONIDE
     Dosage: 245 DOSAGE FORM, QD (1 EVERY 1 DAY)
  35. BUDESONIDE [Suspect]
     Active Substance: BUDESONIDE
     Indication: Colitis ulcerative
  36. BUDESONIDE [Suspect]
     Active Substance: BUDESONIDE
     Dosage: 1 DOSAGE FORM, QD
     Dates: start: 201707
  37. BUDESONIDE [Suspect]
     Active Substance: BUDESONIDE
  38. BUDESONIDE [Suspect]
     Active Substance: BUDESONIDE
     Dosage: 8 DOSAGE FORM, QD
     Dates: start: 201707
  39. BUDESONIDE [Suspect]
     Active Substance: BUDESONIDE
  40. BUDESONIDE [Suspect]
     Active Substance: BUDESONIDE
     Dosage: 245 DOSAGE FORM, QD
  41. BUDESONIDE [Suspect]
     Active Substance: BUDESONIDE
     Dosage: 212 DOSAGE FORM, QD
  42. BUDESONIDE [Suspect]
     Active Substance: BUDESONIDE
     Dosage: 4 DOSAGE FORM, QD
     Dates: start: 201707
  43. BUDESONIDE [Suspect]
     Active Substance: BUDESONIDE
  44. MESALAMINE [Suspect]
     Active Substance: MESALAMINE
     Indication: Colitis ulcerative
     Dosage: 4.8 GRAM, QD (0.8 G, 3 TABLETS TWO TIMES A DAY (4.8 G DAILY,  01-OCT-2016)
  45. MESALAMINE [Suspect]
     Active Substance: MESALAMINE
     Dosage: 3 DOSAGE FORM, BID (Q12H)
     Dates: start: 20161001
  46. MESALAMINE [Suspect]
     Active Substance: MESALAMINE
     Dosage: 2.4 GRAM, QD (1 EVERY 1 DAYS)
     Dates: start: 20161001
  47. MESALAMINE [Suspect]
     Active Substance: MESALAMINE
     Dosage: 3 GRAM, QD (1 EVERY 1 DAYS)
     Dates: start: 20161001
  48. MESALAMINE [Suspect]
     Active Substance: MESALAMINE
     Dosage: 3 DOSAGE FORM, BID
     Dates: start: 201610
  49. MESALAMINE [Suspect]
     Active Substance: MESALAMINE
     Dosage: 6 DOSAGE FORM, QD
     Dates: start: 20161001
  50. MESALAMINE [Suspect]
     Active Substance: MESALAMINE
     Dosage: 3 GRAM, BID
     Dates: start: 20161001
  51. MESALAMINE [Suspect]
     Active Substance: MESALAMINE
     Dosage: 6 DOSAGE FORM, BID
     Dates: start: 201610
  52. MESALAMINE [Suspect]
     Active Substance: MESALAMINE
     Dosage: 6 DOSAGE FORM, QD (3 DOSAGE FORM, BID)
     Dates: start: 20161001
  53. MESALAMINE [Suspect]
     Active Substance: MESALAMINE
     Dates: start: 20170101, end: 20170901
  54. MESALAMINE [Suspect]
     Active Substance: MESALAMINE
     Dosage: 3 DOSAGE FORM, BID,3 DOSAGE FORM, Q12H
     Dates: start: 20161001
  55. MESALAMINE [Suspect]
     Active Substance: MESALAMINE
  56. MESALAMINE [Suspect]
     Active Substance: MESALAMINE
  57. MESALAMINE [Suspect]
     Active Substance: MESALAMINE
     Dosage: 4.8 GRAM, QD
     Dates: start: 20161001
  58. MESALAMINE [Suspect]
     Active Substance: MESALAMINE
  59. MESALAMINE [Suspect]
     Active Substance: MESALAMINE
     Indication: Colitis ulcerative
     Dosage: 3 DOSAGE FORM, BID (0.8 G, 3 TABLETS TWO TIMES A DAY (4.8 G DAILY)
     Dates: start: 201610
  60. MESALAMINE [Suspect]
     Active Substance: MESALAMINE
     Dosage: 8 DOSAGE FORM, QD
     Dates: start: 201707
  61. MESALAMINE [Suspect]
     Active Substance: MESALAMINE
     Dosage: 3 GRAM, QD
     Dates: start: 20161001
  62. MESALAMINE [Suspect]
     Active Substance: MESALAMINE
     Dosage: 4.8 GRAM, QD
     Dates: start: 20161001
  63. MESALAMINE [Suspect]
     Active Substance: MESALAMINE
     Dosage: 6 DOSAGE FORM, BID (2 EVERY 1 DAYS)
     Dates: start: 20161001
  64. MESALAMINE [Suspect]
     Active Substance: MESALAMINE
     Dosage: 6 DOSAGE FORM, QD
     Dates: start: 20161001
  65. MESALAMINE [Suspect]
     Active Substance: MESALAMINE
     Dosage: 2.4 GRAM, QD
     Dates: start: 20161001
  66. MESALAMINE [Suspect]
     Active Substance: MESALAMINE
     Dosage: 3 DOSAGE FORM, BID
     Dates: start: 201610
  67. MESALAMINE [Suspect]
     Active Substance: MESALAMINE
     Dosage: 2.4 GRAM, QD (1 DOSAGE FORM)
     Dates: start: 201707
  68. MESALAMINE [Suspect]
     Active Substance: MESALAMINE
     Indication: Product used for unknown indication
     Dosage: 6 DOSAGE FORM, QD
     Dates: start: 201610
  69. BUDESONIDE [Suspect]
     Active Substance: BUDESONIDE
     Indication: Colitis ulcerative
  70. BUDESONIDE [Suspect]
     Active Substance: BUDESONIDE
  71. BUDESONIDE [Suspect]
     Active Substance: BUDESONIDE
     Dosage: 1 DOSAGE FORM, QD
     Dates: start: 20170701
  72. BUDESONIDE [Suspect]
     Active Substance: BUDESONIDE
  73. BUDESONIDE [Suspect]
     Active Substance: BUDESONIDE
     Dosage: 1 DOSAGE FORM, QD
     Dates: start: 201707
  74. BUDESONIDE [Suspect]
     Active Substance: BUDESONIDE
  75. BUDESONIDE [Suspect]
     Active Substance: BUDESONIDE
  76. BUDESONIDE [Suspect]
     Active Substance: BUDESONIDE
  77. BUDESONIDE [Suspect]
     Active Substance: BUDESONIDE
  78. MESALAMINE [Suspect]
     Active Substance: MESALAMINE
     Indication: Colitis ulcerative
     Dates: start: 20160101, end: 201610
  79. MESALAMINE [Suspect]
     Active Substance: MESALAMINE
  80. MESALAMINE [Suspect]
     Active Substance: MESALAMINE
  81. MESALAMINE [Suspect]
     Active Substance: MESALAMINE
     Dates: start: 20160101, end: 20161001
  82. MESALAMINE [Suspect]
     Active Substance: MESALAMINE
     Dosage: 6 DOSAGE FORM, QD
     Dates: start: 201610
  83. MESALAMINE [Suspect]
     Active Substance: MESALAMINE
     Dosage: 6 DOSAGE FORM, QD
     Dates: start: 20161001
  84. MESALAMINE [Suspect]
     Active Substance: MESALAMINE
  85. MESALAMINE [Suspect]
     Active Substance: MESALAMINE
  86. MESALAMINE [Suspect]
     Active Substance: MESALAMINE
  87. MESALAMINE [Suspect]
     Active Substance: MESALAMINE
     Dosage: 4.8 GRAM, QD
     Dates: start: 20170101
  88. MESALAMINE [Suspect]
     Active Substance: MESALAMINE
     Dates: start: 20170101, end: 20170901
  89. MESALAMINE [Suspect]
     Active Substance: MESALAMINE
     Dosage: 2.4 GRAM, QD
     Dates: start: 20161001
  90. MESALAMINE [Suspect]
     Active Substance: MESALAMINE
  91. MESALAMINE [Suspect]
     Active Substance: MESALAMINE
     Dosage: 4.8 GRAM, QD
     Dates: start: 20161001
  92. MESALAMINE [Suspect]
     Active Substance: MESALAMINE
     Dates: start: 20170101, end: 20170901
  93. MESALAMINE [Suspect]
     Active Substance: MESALAMINE
  94. MESALAMINE [Suspect]
     Active Substance: MESALAMINE
     Dates: start: 201601, end: 201610
  95. MESALAMINE [Suspect]
     Active Substance: MESALAMINE
  96. MESALAMINE [Suspect]
     Active Substance: MESALAMINE
  97. MESALAMINE [Suspect]
     Active Substance: MESALAMINE
     Dates: start: 20160101, end: 201610
  98. MESALAMINE [Suspect]
     Active Substance: MESALAMINE
     Dates: start: 20160101, end: 20161001
  99. MESALAMINE [Suspect]
     Active Substance: MESALAMINE
  100. MESALAMINE [Suspect]
     Active Substance: MESALAMINE
     Dosage: 1 DOSAGE FORM, QD (1 DOSE PER 1 DAY)
  101. MESALAMINE [Suspect]
     Active Substance: MESALAMINE
     Dosage: 3 GRAM, QD (1 DOSE PER DAY)
  102. MESALAMINE [Suspect]
     Active Substance: MESALAMINE
  103. MESALAMINE [Suspect]
     Active Substance: MESALAMINE
  104. MESALAMINE [Suspect]
     Active Substance: MESALAMINE
  105. MESALAMINE [Suspect]
     Active Substance: MESALAMINE
  106. MESALAMINE [Suspect]
     Active Substance: MESALAMINE
     Dosage: 6 DOSAGE FORM, QD (1 DOSE PER 1 DAY)
  107. MESALAMINE [Suspect]
     Active Substance: MESALAMINE
     Dosage: 1 DOSAGE FORM, QD (1 DOSE PER 1 DAY)
  108. MESALAMINE [Suspect]
     Active Substance: MESALAMINE
  109. MESALAMINE [Suspect]
     Active Substance: MESALAMINE
     Indication: Colitis ulcerative
  110. MESALAMINE [Suspect]
     Active Substance: MESALAMINE
  111. MESALAMINE [Suspect]
     Active Substance: MESALAMINE
     Indication: Colitis ulcerative
  112. MESALAMINE [Suspect]
     Active Substance: MESALAMINE
     Dates: start: 20160101, end: 20161001
  113. MESALAMINE [Suspect]
     Active Substance: MESALAMINE
     Dates: start: 20170101, end: 20170901
  114. MESALAMINE [Suspect]
     Active Substance: MESALAMINE
     Dates: start: 20160101, end: 20161001
  115. MESALAMINE [Suspect]
     Active Substance: MESALAMINE
     Dates: start: 20170101, end: 20170901
  116. MESALAMINE [Suspect]
     Active Substance: MESALAMINE
  117. MESALAMINE [Suspect]
     Active Substance: MESALAMINE
     Dosage: 4.8 MILLIGRAM, QD
     Dates: start: 20170101
  118. MESALAMINE [Suspect]
     Active Substance: MESALAMINE
     Dosage: 3 DOSAGE FORM, BID
     Dates: start: 201610
  119. MESALAMINE [Suspect]
     Active Substance: MESALAMINE
  120. MESALAMINE [Suspect]
     Active Substance: MESALAMINE
     Dosage: 6 DOSAGE FORM, QD
     Dates: start: 20161001
  121. MESALAMINE [Suspect]
     Active Substance: MESALAMINE
  122. MESALAMINE [Suspect]
     Active Substance: MESALAMINE
     Dosage: 2.4 GRAM, QD
     Dates: start: 20161001
  123. MESALAMINE [Suspect]
     Active Substance: MESALAMINE
     Dosage: 4.8 MILLIGRAM, QD
     Dates: start: 20161001
  124. MESALAMINE [Suspect]
     Active Substance: MESALAMINE
  125. MESALAMINE [Suspect]
     Active Substance: MESALAMINE
  126. MESALAMINE [Suspect]
     Active Substance: MESALAMINE
  127. MESALAMINE [Suspect]
     Active Substance: MESALAMINE
     Dosage: 6 DOSAGE FORM, QD(3 DOSAGE FORM, BID )
     Dates: start: 201610
  128. MESALAMINE [Suspect]
     Active Substance: MESALAMINE
     Dosage: 2.4 GRAM, QD (0.8 G, 3 TABLETS TWO TIMES A DAY (4.8 G DAILY))
     Dates: start: 20161001
  129. MESALAMINE [Suspect]
     Active Substance: MESALAMINE
  130. MESALAMINE [Suspect]
     Active Substance: MESALAMINE
  131. MESALAMINE [Suspect]
     Active Substance: MESALAMINE
     Dosage: 3 DOSAGE FORM, BID
     Dates: start: 201601
  132. MESALAMINE [Suspect]
     Active Substance: MESALAMINE
     Dates: start: 20170101, end: 20171001
  133. MESALAMINE [Suspect]
     Active Substance: MESALAMINE
     Dates: start: 2017, end: 201709
  134. MESALAMINE [Suspect]
     Active Substance: MESALAMINE
     Dosage: 6 DOSAGE FORM, QD
     Dates: start: 20161001
  135. MESALAMINE [Suspect]
     Active Substance: MESALAMINE
  136. MESALAMINE [Suspect]
     Active Substance: MESALAMINE
     Dosage: 3 GRAM, QD
     Dates: start: 20160110
  137. MESALAMINE [Suspect]
     Active Substance: MESALAMINE
     Dates: start: 20170101, end: 20171001
  138. MESALAMINE [Suspect]
     Active Substance: MESALAMINE
     Dosage: 4.8 GRAM, QD
     Dates: start: 20161001
  139. MESALAMINE [Suspect]
     Active Substance: MESALAMINE
     Dosage: 6 DOSAGE FORM, QD (3 DOSAGE FORM, BID)
     Dates: start: 2016
  140. MESALAMINE [Suspect]
     Active Substance: MESALAMINE
  141. MESALAMINE [Suspect]
     Active Substance: MESALAMINE
     Dosage: 4.8 GRAM, QD
     Dates: start: 20161001
  142. MESALAMINE [Suspect]
     Active Substance: MESALAMINE
  143. MESALAMINE [Suspect]
     Active Substance: MESALAMINE
     Dosage: 1 DOSAGE FORM, QD
     Dates: start: 201707
  144. MESALAMINE [Suspect]
     Active Substance: MESALAMINE
  145. MESALAMINE [Suspect]
     Active Substance: MESALAMINE
     Indication: Colitis ulcerative
  146. MESALAMINE [Suspect]
     Active Substance: MESALAMINE
  147. MESALAMINE [Suspect]
     Active Substance: MESALAMINE
     Dates: start: 20160101, end: 20161001
  148. MESALAMINE [Suspect]
     Active Substance: MESALAMINE
  149. MESALAMINE [Suspect]
     Active Substance: MESALAMINE
     Dates: start: 201601, end: 201610
  150. MESALAMINE [Suspect]
     Active Substance: MESALAMINE
     Indication: Colitis ulcerative
     Dates: start: 20160101, end: 20160101
  151. MESALAMINE [Suspect]
     Active Substance: MESALAMINE
  152. MESALAMINE [Suspect]
     Active Substance: MESALAMINE
  153. MESALAMINE [Suspect]
     Active Substance: MESALAMINE
  154. MESALAMINE [Suspect]
     Active Substance: MESALAMINE
  155. MESALAMINE [Suspect]
     Active Substance: MESALAMINE
     Dosage: 50 MILLIGRAM, QD (1 DOSE PER 1 DAY)
  156. MESALAMINE [Suspect]
     Active Substance: MESALAMINE
     Dosage: 6 DOSAGE FORM, QD (3 DOSAGE FORM, 2 DOSE PER 1 DAY)
  157. MESALAMINE [Suspect]
     Active Substance: MESALAMINE
     Dosage: 24 DOSAGE FORM, QD (1 DOSE PER 1 DAY)
  158. MESALAMINE [Suspect]
     Active Substance: MESALAMINE
  159. MESALAMINE [Suspect]
     Active Substance: MESALAMINE
     Dosage: 40 MILLIGRAM, QD ( 1 DOSE PER 1 DAY)
  160. MESALAMINE [Suspect]
     Active Substance: MESALAMINE
     Dosage: 12 DOSAGE FORM, QD (1 DOSE PER 1 DAY)
  161. MESALAMINE [Suspect]
     Active Substance: MESALAMINE
  162. MESALAMINE [Suspect]
     Active Substance: MESALAMINE
     Dosage: 4.8 GRAM, QD (1 DOSE PER 1 DAY)
  163. MESALAMINE [Suspect]
     Active Substance: MESALAMINE
     Dosage: 60 DOSAGE FORM, QD (30 DOSAGE FORM, 2 DOSE PER 1 DAY)
  164. MESALAMINE [Suspect]
     Active Substance: MESALAMINE
     Dosage: 3 GRAM, QD (1 DOSE PER 1 DAY)
  165. MESALAMINE [Suspect]
     Active Substance: MESALAMINE
     Dosage: 12 DOSAGE FORM, QD (6 DOSAGE FORM, 2 DOSE PER 1 DAY)
  166. MESALAMINE [Suspect]
     Active Substance: MESALAMINE
     Dosage: 2.4 GRAM, MONTHLY
  167. MESALAMINE [Suspect]
     Active Substance: MESALAMINE
  168. MESALAMINE [Suspect]
     Active Substance: MESALAMINE
  169. BUDESONIDE [Suspect]
     Active Substance: BUDESONIDE
     Indication: Colitis ulcerative
     Dosage: 1 DOSAGE FORM, QD
     Dates: start: 201707, end: 201707
  170. BUDESONIDE [Suspect]
     Active Substance: BUDESONIDE
  171. BUDESONIDE [Suspect]
     Active Substance: BUDESONIDE
  172. BUDESONIDE [Suspect]
     Active Substance: BUDESONIDE
  173. BUDESONIDE [Suspect]
     Active Substance: BUDESONIDE
     Dosage: 1 DOSAGE FORM, QD
     Dates: start: 20170701
  174. BUDESONIDE [Suspect]
     Active Substance: BUDESONIDE
  175. BUDESONIDE [Suspect]
     Active Substance: BUDESONIDE
  176. BUDESONIDE [Suspect]
     Active Substance: BUDESONIDE
  177. BUDESONIDE [Suspect]
     Active Substance: BUDESONIDE
     Dosage: 8 DOSAGE FORM, QD (1 DOSE PER DAY)
  178. BUDESONIDE [Suspect]
     Active Substance: BUDESONIDE
     Dosage: UNK, QD (A DOSE PER DAY)
  179. BUDESONIDE [Suspect]
     Active Substance: BUDESONIDE
     Dosage: 1 DOSAGE FORM, QID
     Dates: start: 201707
  180. BUDESONIDE [Suspect]
     Active Substance: BUDESONIDE
     Dosage: 245 DOSAGE FORM, QID (1 DOSE PER DAY)
  181. BUDESONIDE [Suspect]
     Active Substance: BUDESONIDE
  182. BUDESONIDE [Suspect]
     Active Substance: BUDESONIDE
  183. BUDESONIDE [Suspect]
     Active Substance: BUDESONIDE
  184. BUDESONIDE [Suspect]
     Active Substance: BUDESONIDE
     Indication: Colitis ulcerative
     Dosage: 1 DOSAGE FORM, QD (1 DOSE PER ONE DAY)
  185. BUDESONIDE [Suspect]
     Active Substance: BUDESONIDE
     Dosage: 1 DOSAGE FORM, QD (1 DOSE PER ONE DAY)
  186. BUDESONIDE [Suspect]
     Active Substance: BUDESONIDE
     Dosage: 8 DOSAGE FORM, BIMONTHLY (1 DOSE PER 8W)
     Dates: start: 201707
  187. BUDESONIDE [Suspect]
     Active Substance: BUDESONIDE
     Dosage: 8 DOSAGE FORM, BIMONTHLY (1 DOSE PER 8W)
  188. BUDESONIDE [Suspect]
     Active Substance: BUDESONIDE
     Dosage: UNK, BIMONTHLY (1 DOSE PER 8W)
  189. BUDESONIDE [Suspect]
     Active Substance: BUDESONIDE
  190. BUDESONIDE [Suspect]
     Active Substance: BUDESONIDE
     Dosage: 8 DOSAGE FORM, QD (1 DOSE PER 1 DAY)
  191. ASPIRIN [Suspect]
     Active Substance: ASPIRIN
     Indication: Ill-defined disorder
  192. ASPIRIN [Suspect]
     Active Substance: ASPIRIN
     Indication: Colitis ulcerative
  193. TOFACITINIB [Suspect]
     Active Substance: TOFACITINIB
     Indication: Colitis ulcerative
  194. CALCIUM CARBONATE\CHOLECALCIFEROL [Suspect]
     Active Substance: CALCIUM CARBONATE\CHOLECALCIFEROL
     Indication: Product used for unknown indication
  195. CALCIUM CARBONATE\CHOLECALCIFEROL [Suspect]
     Active Substance: CALCIUM CARBONATE\CHOLECALCIFEROL
     Dosage: 100 MILLIGRAM, QD
  196. ROSUVASTATIN CALCIUM [Suspect]
     Active Substance: ROSUVASTATIN CALCIUM
     Indication: Ill-defined disorder
     Dosage: 10 MILLIGRAM, QD (1 EVERY 1 DAYS)
  197. ROSUVASTATIN CALCIUM [Suspect]
     Active Substance: ROSUVASTATIN CALCIUM
     Indication: Blood cholesterol increased
  198. ROSUVASTATIN CALCIUM [Suspect]
     Active Substance: ROSUVASTATIN CALCIUM
     Indication: Ill-defined disorder
  199. ROSUVASTATIN CALCIUM [Suspect]
     Active Substance: ROSUVASTATIN CALCIUM
     Indication: Blood cholesterol increased
     Dosage: 10 MILLIGRAM, QD (1 EVERY 1 DAYS)
  200. ROSUVASTATIN CALCIUM [Suspect]
     Active Substance: ROSUVASTATIN CALCIUM
  201. ROSUVASTATIN CALCIUM [Suspect]
     Active Substance: ROSUVASTATIN CALCIUM
  202. MESALAMINE [Suspect]
     Active Substance: MESALAMINE
     Indication: Colitis ulcerative
  203. MESALAMINE [Suspect]
     Active Substance: MESALAMINE
  204. MESALAMINE [Suspect]
     Active Substance: MESALAMINE
     Dates: start: 20160101, end: 20161001
  205. MESALAMINE [Suspect]
     Active Substance: MESALAMINE
  206. MESALAMINE [Suspect]
     Active Substance: MESALAMINE
  207. MESALAMINE [Suspect]
     Active Substance: MESALAMINE
     Dosage: UNK, QD (1 EVERY1 DAYS)
  208. MESALAMINE [Suspect]
     Active Substance: MESALAMINE
  209. MESALAMINE [Suspect]
     Active Substance: MESALAMINE
  210. MESALAMINE [Suspect]
     Active Substance: MESALAMINE
  211. MESALAMINE [Suspect]
     Active Substance: MESALAMINE
  212. MESALAMINE [Suspect]
     Active Substance: MESALAMINE
     Dosage: 6 DOSAGE FORM, QD (1 EVERY 1 DAYS)
  213. MESALAMINE [Suspect]
     Active Substance: MESALAMINE
     Dosage: 3 GRAM, QD (1 EVERY 1 DAYS)
  214. MESALAMINE [Suspect]
     Active Substance: MESALAMINE
     Dosage: 2.4 GRAM, QD QD (1 EVERY 1 DAYS)
  215. MESALAMINE [Suspect]
     Active Substance: MESALAMINE
     Dosage: 2.4 GRAM, QD QD (1 EVERY 1 DAYS)
  216. MESALAMINE [Suspect]
     Active Substance: MESALAMINE
     Dosage: 6 DOSAGE FORM, QD (3 DOSAGE FORM, 2 EVERY 1 DAYS)
  217. MESALAMINE [Suspect]
     Active Substance: MESALAMINE
  218. MESALAMINE [Suspect]
     Active Substance: MESALAMINE
     Dosage: 1 DOSAGE FORM, QD (1 EVERY 1 DAYS)
  219. MESALAMINE [Suspect]
     Active Substance: MESALAMINE
     Dosage: 4.8 MILLIGRAM, QD QD (1 EVERY 1 DAYS)
  220. MESALAMINE [Suspect]
     Active Substance: MESALAMINE
  221. MESALAMINE [Suspect]
     Active Substance: MESALAMINE
  222. MESALAMINE [Suspect]
     Active Substance: MESALAMINE
  223. MESALAMINE [Suspect]
     Active Substance: MESALAMINE
     Dosage: 3 DOSAGE FORM, BID (2 EVERY 1 DAYS)
  224. MESALAMINE [Suspect]
     Active Substance: MESALAMINE
     Indication: Colitis ulcerative
     Dosage: 3 GRAM, BID (EVERY 12 HOURS)
  225. MESALAMINE [Suspect]
     Active Substance: MESALAMINE
  226. MESALAMINE [Suspect]
     Active Substance: MESALAMINE
     Dosage: 1 DOSAGE FORM, QD (1 EVERY 1 DAYS)
  227. MESALAMINE [Suspect]
     Active Substance: MESALAMINE
     Dosage: 12 DOSAGE FORM, QD (1 EVERY 1 DAYS)
  228. MESALAMINE [Suspect]
     Active Substance: MESALAMINE
  229. MESALAMINE [Suspect]
     Active Substance: MESALAMINE
     Dosage: 4.8 DOSAGE FORM, QD  (1 EVERY 1 DAYS)
  230. MESALAMINE [Suspect]
     Active Substance: MESALAMINE
     Dosage: 4.8 DOSAGE FORM, QD  (1 EVERY 1 DAYS)
     Dates: start: 20161001
  231. MESALAMINE [Suspect]
     Active Substance: MESALAMINE
     Dosage: 6 DOSAGE FORM, QD (1 EVERY 1 DAYS)
  232. MESALAMINE [Suspect]
     Active Substance: MESALAMINE
     Dosage: 3 GRAM, BID (2 EVERY 1 DAYS)
  233. MESALAMINE [Suspect]
     Active Substance: MESALAMINE
     Dosage: 1 DOSAGE FORM, QD (1 EVERY 1 DAYS)
  234. MESALAMINE [Suspect]
     Active Substance: MESALAMINE
     Dosage: 6 DOSAGE FORM, QD (3 GRAM, EVERY 12 HOURS)
  235. MESALAMINE [Suspect]
     Active Substance: MESALAMINE
  236. MESALAMINE [Suspect]
     Active Substance: MESALAMINE
     Dosage: 6 DOSAGE FORM, QD (3 DOSAGE FORM, Q12H)
     Dates: start: 20161001
  237. MESALAMINE [Suspect]
     Active Substance: MESALAMINE
     Dosage: 12 DOSAGE FORM, QD (6.0 DOSAGE FORM, 2 EVERY 1 DAYS)
     Dates: start: 20161001
  238. MESALAMINE [Suspect]
     Active Substance: MESALAMINE
     Dosage: 1 DOSAGE FORM, QD (6.0 DOSAGE FORM, 1 EVERY 1 DAYS)
  239. MESALAMINE [Suspect]
     Active Substance: MESALAMINE
     Dosage: 6 GRAM, QD (3 GRAM, 2 EVERY 1 DAYS)
  240. ACETAMINOPHEN [Suspect]
     Active Substance: ACETAMINOPHEN
     Indication: Ill-defined disorder
     Dosage: 200 MILLIGRAM, TID
  241. ROSUVASTATIN CALCIUM [Suspect]
     Active Substance: ROSUVASTATIN CALCIUM
     Indication: Ill-defined disorder
  242. ROSUVASTATIN CALCIUM [Suspect]
     Active Substance: ROSUVASTATIN CALCIUM
     Indication: Blood cholesterol increased
  243. ROSUVASTATIN CALCIUM [Suspect]
     Active Substance: ROSUVASTATIN CALCIUM
     Dosage: 10 MILLIGRAM, QD (1 EVERY 1 DAYS)
  244. ROSUVASTATIN CALCIUM [Suspect]
     Active Substance: ROSUVASTATIN CALCIUM
  245. EPINEPHRINE [Suspect]
     Active Substance: EPINEPHRINE
     Indication: Product used for unknown indication
  246. EPINEPHRINE [Suspect]
     Active Substance: EPINEPHRINE
     Indication: Product used for unknown indication
  247. ACETAMINOPHEN [Suspect]
     Active Substance: ACETAMINOPHEN
     Indication: Ill-defined disorder
     Dosage: 2000 MILLIGRAM, QD (500 MILLIRAM, 4 DOSE PER 1 DAY)
  248. ACETAMINOPHEN [Suspect]
     Active Substance: ACETAMINOPHEN
  249. ACETAMINOPHEN [Suspect]
     Active Substance: ACETAMINOPHEN
     Dosage: 500 MILLIGRAM, QID (4 EVERY 1 DAY)
  250. ROSUVASTATIN CALCIUM [Suspect]
     Active Substance: ROSUVASTATIN CALCIUM
     Indication: Product used for unknown indication
  251. ROSUVASTATIN CALCIUM [Suspect]
     Active Substance: ROSUVASTATIN CALCIUM
     Dosage: 10 MILLIGRAM, QD (1 DOSE PER 1 DAY )
  252. ROSUVASTATIN CALCIUM [Suspect]
     Active Substance: ROSUVASTATIN CALCIUM
     Indication: Ill-defined disorder
  253. ROSUVASTATIN CALCIUM [Suspect]
     Active Substance: ROSUVASTATIN CALCIUM
     Dosage: 10 MILLIGRAM, QD
  254. MESALAMINE [Suspect]
     Active Substance: MESALAMINE
     Indication: Colitis ulcerative
     Dates: start: 20160101, end: 20160101
  255. MESALAMINE [Suspect]
     Active Substance: MESALAMINE
     Dates: start: 20160101, end: 201610
  256. MESALAMINE [Suspect]
     Active Substance: MESALAMINE
  257. MESALAMINE [Suspect]
     Active Substance: MESALAMINE
  258. MESALAMINE [Suspect]
     Active Substance: MESALAMINE
     Dates: start: 201601, end: 201610
  259. MESALAMINE [Suspect]
     Active Substance: MESALAMINE
     Dosage: 50 MILLIGRAM, QD (1 DOSE PER 1 DAY)
  260. MESALAMINE [Suspect]
     Active Substance: MESALAMINE
     Dosage: 3 DOSAGE FORM, BID (2 DOSE PER DAY)
  261. MESALAMINE [Suspect]
     Active Substance: MESALAMINE
     Dosage: 6 DOSAGE FORM, QD (1 DOSE PER DAY)
  262. MESALAMINE [Suspect]
     Active Substance: MESALAMINE
     Dosage: 40 MILLIGRAM, QD (1 DOSE PER 1 DAY)
  263. MESALAMINE [Suspect]
     Active Substance: MESALAMINE
     Dosage: 1 DOSAGE FORM, QD (1 DOSE PER DAY)
  264. MESALAMINE [Suspect]
     Active Substance: MESALAMINE
  265. MESALAMINE [Suspect]
     Active Substance: MESALAMINE
     Dosage: 12 DOSAGE FORM, QD (1 DOSE PER DAY)
  266. MESALAMINE [Suspect]
     Active Substance: MESALAMINE
     Dosage: 4.8 GRAM, QD (1 DOSE PER 1 DAY)
  267. MESALAMINE [Suspect]
     Active Substance: MESALAMINE
     Dosage: 60 DOSAGE FORM, BID (2 DOSAGE FORM PER DAY)
  268. MESALAMINE [Suspect]
     Active Substance: MESALAMINE
     Dosage: 3 GRAM, QD (1 DOSE PER DAY)
  269. MESALAMINE [Suspect]
     Active Substance: MESALAMINE
     Dosage: 24 DOSAGE FORM, QD (1 DOSAGE FORM PER DAY)
  270. MESALAMINE [Suspect]
     Active Substance: MESALAMINE
     Dosage: 6 DOSAGE FORM, BID (2 DOSE PER DAY)
  271. MESALAMINE [Suspect]
     Active Substance: MESALAMINE
  272. MESALAMINE [Suspect]
     Active Substance: MESALAMINE
  273. ASPIRIN [Suspect]
     Active Substance: ASPIRIN
     Indication: Ill-defined disorder
  274. ASPIRIN [Suspect]
     Active Substance: ASPIRIN
     Indication: Product used for unknown indication
  275. MESALAMINE [Suspect]
     Active Substance: MESALAMINE
     Indication: Colitis ulcerative
     Dosage: 12 DOSAGE FORM, QD (1 DOSE PER DAY)
  276. MESALAMINE [Suspect]
     Active Substance: MESALAMINE
     Dosage: 2.4 GRAM, QD (1 DOSE PER DAY)
     Dates: start: 20161001
  277. MESALAMINE [Suspect]
     Active Substance: MESALAMINE
     Dosage: 3 GRAM, QD (1 DOSE PER DAY)
     Dates: start: 20161001
  278. MESALAMINE [Suspect]
     Active Substance: MESALAMINE
     Dosage: 4.8 GRAM, QD  (1 DOSE PER DAY)
     Dates: start: 20161001
  279. MESALAMINE [Suspect]
     Active Substance: MESALAMINE
  280. MESALAMINE [Suspect]
     Active Substance: MESALAMINE
  281. MESALAMINE [Suspect]
     Active Substance: MESALAMINE
     Dosage: 6 DOSAGE FORM, BID (2 DOSE PER DAY)
  282. MESALAMINE [Suspect]
     Active Substance: MESALAMINE
  283. MESALAMINE [Suspect]
     Active Substance: MESALAMINE
     Dosage: 6 DOSAGE FORM, QD (1 DOSE PER DAY)
     Dates: start: 20161001
  284. MESALAMINE [Suspect]
     Active Substance: MESALAMINE
     Dosage: 1 DOSAGE FORM, QD (1 DOSE PER DAY)
  285. MESALAMINE [Suspect]
     Active Substance: MESALAMINE
     Dosage: 3 DOSAGE FORM, BID (1 DOSE PER 12 HR)
  286. MESALAMINE [Suspect]
     Active Substance: MESALAMINE
     Dosage: 40 MILLIGRAM, QD (1 DOSE PER DAY)
  287. MESALAMINE [Suspect]
     Active Substance: MESALAMINE
     Dosage: 50 MILLIGRAM, QD (1 DOSE PER DAY)
  288. LISDEXAMFETAMINE DIMESYLATE [Suspect]
     Active Substance: LISDEXAMFETAMINE DIMESYLATE
     Indication: Product used for unknown indication
  289. ADALIMUMAB [Suspect]
     Active Substance: ADALIMUMAB
     Indication: Crohn^s disease
  290. ADALIMUMAB [Suspect]
     Active Substance: ADALIMUMAB
     Indication: Deep vein thrombosis
  291. ADALIMUMAB [Suspect]
     Active Substance: ADALIMUMAB
     Indication: Colitis ulcerative
  292. ADALIMUMAB [Suspect]
     Active Substance: ADALIMUMAB
  293. ADALIMUMAB [Suspect]
     Active Substance: ADALIMUMAB
  294. ENTYVIO [Suspect]
     Active Substance: VEDOLIZUMAB
     Indication: Colitis ulcerative
  295. ENTYVIO [Suspect]
     Active Substance: VEDOLIZUMAB
     Indication: Deep vein thrombosis
  296. CORTISONE [Suspect]
     Active Substance: CORTISONE
     Indication: Colitis ulcerative
     Dosage: 8 MILLIGRAM, QW (1 EVERY 1 WEEKS)
  297. CORTISONE [Suspect]
     Active Substance: CORTISONE
     Indication: Crohn^s disease
  298. CORTISONE [Suspect]
     Active Substance: CORTISONE
     Dosage: 6 MILLIGRAM, QW (1 EVERY 1 WEEK)
  299. CORTISONE [Suspect]
     Active Substance: CORTISONE
  300. CORTISONE [Suspect]
     Active Substance: CORTISONE
     Dosage: 1 DOSAGE FORM, QD (1 EVERY 1 DAYS)
  301. CORTISONE [Suspect]
     Active Substance: CORTISONE
     Dosage: 8 DOSAGE FORM, QD (1 EVERY 1 DAY)
  302. CORTISONE [Suspect]
     Active Substance: CORTISONE
     Dosage: 1 DOSAGE FORM, QD (1 EVERY 1 DAYS)
  303. CORTISONE [Suspect]
     Active Substance: CORTISONE
     Dosage: 8 DOSAGE FORM, QD (1 EVERY 1 DAY)
  304. CORTISONE [Suspect]
     Active Substance: CORTISONE
     Dosage: 1 DOSAGE FORM, 6XW (1 DOSE PER 6W)
  305. CORTISONE [Suspect]
     Active Substance: CORTISONE
     Dosage: 8 MILLIGRAM, BIMONTHLY (1 DOSE PER 8W)
  306. ASPIRIN [Suspect]
     Active Substance: ASPIRIN
     Indication: Ill-defined disorder
  307. ESOMEPRAZOLE [Suspect]
     Active Substance: ESOMEPRAZOLE
     Indication: Gastritis
  308. WARFARIN [Suspect]
     Active Substance: WARFARIN
     Indication: Deep vein thrombosis
  309. WARFARIN [Suspect]
     Active Substance: WARFARIN
     Indication: Colitis ulcerative
  310. WARFARIN [Suspect]
     Active Substance: WARFARIN
     Indication: Crohn^s disease
  311. WARFARIN [Suspect]
     Active Substance: WARFARIN
  312. WARFARIN [Suspect]
     Active Substance: WARFARIN
     Dosage: 1 DOSAGE FORM, QD
     Dates: start: 201707
  313. WARFARIN [Suspect]
     Active Substance: WARFARIN
  314. WARFARIN [Suspect]
     Active Substance: WARFARIN
  315. WARFARIN [Suspect]
     Active Substance: WARFARIN
  316. WARFARIN [Suspect]
     Active Substance: WARFARIN
  317. WARFARIN [Suspect]
     Active Substance: WARFARIN
  318. WARFARIN [Suspect]
     Active Substance: WARFARIN
  319. WARFARIN [Suspect]
     Active Substance: WARFARIN
  320. WARFARIN [Suspect]
     Active Substance: WARFARIN
  321. WARFARIN [Suspect]
     Active Substance: WARFARIN
     Dosage: 1 DOSAGE FORM, QD (1 DOSE PER DAY)
     Dates: start: 2009
  322. WARFARIN [Suspect]
     Active Substance: WARFARIN
  323. WARFARIN [Suspect]
     Active Substance: WARFARIN
  324. WARFARIN [Suspect]
     Active Substance: WARFARIN
     Dosage: 8 DOSAGE FORM, QD (1 EVERY 1 DAY)
  325. WARFARIN [Suspect]
     Active Substance: WARFARIN
     Dosage: 1 DOSAGE FORM, QD (1 DOSE PER DAY)
  326. FELODIPINE [Suspect]
     Active Substance: FELODIPINE
     Indication: Hypertension
     Dosage: 3 MILLIGRAM, QD
  327. FELODIPINE [Suspect]
     Active Substance: FELODIPINE
     Dosage: 5 MILLIGRAM, QD (2.5 MILLIGRAM, 2 DOSE PER 1 D )
  328. FELODIPINE [Suspect]
     Active Substance: FELODIPINE
     Dosage: 2.5 MILLIGRAM, QD
  329. FELODIPINE [Suspect]
     Active Substance: FELODIPINE
     Dosage: 2.5 MILLIGRAM, BID (2 EVERY 1 DAY)
  330. HYDROCORTISONE [Suspect]
     Active Substance: HYDROCORTISONE
     Indication: Colitis ulcerative
     Dosage: 1 DOSAGE FORM, QD
     Dates: start: 201807, end: 201807
  331. HYDROCORTISONE [Suspect]
     Active Substance: HYDROCORTISONE
  332. HYDROCORTISONE [Suspect]
     Active Substance: HYDROCORTISONE
     Dosage: 8 DOSAGE FORM, QD (8 DOSE PER 1D)
     Dates: start: 201807
  333. HYDROCORTISONE [Suspect]
     Active Substance: HYDROCORTISONE
  334. HYDROCORTISONE [Suspect]
     Active Substance: HYDROCORTISONE
  335. HYDROCORTISONE [Suspect]
     Active Substance: HYDROCORTISONE
     Dosage: 1 DOSAGE FORM, QD (1 EVERY 1 DAYS)
  336. HYDROCORTISONE [Suspect]
     Active Substance: HYDROCORTISONE
  337. HYDROCORTISONE [Suspect]
     Active Substance: HYDROCORTISONE
     Dosage: 8 DOSAGE FORM, QD (1 DOSE PER 1D)
     Dates: start: 201807
  338. HYDROCORTISONE [Suspect]
     Active Substance: HYDROCORTISONE
  339. HYDROCORTISONE [Suspect]
     Active Substance: HYDROCORTISONE
     Dosage: 3 DOSAGE FORM, BID(6 DOSAGE FORM, QD)
     Dates: start: 201610
  340. HYDROCORTISONE [Suspect]
     Active Substance: HYDROCORTISONE
     Dosage: 1 DOSAGE FORM, QD (1 EVERY 1 DAYS)
  341. HYDROCORTISONE [Suspect]
     Active Substance: HYDROCORTISONE
  342. HYDROCORTISONE [Suspect]
     Active Substance: HYDROCORTISONE
     Dosage: 1 DOSAGE FORM, QD (1 EVERY 1 DAYS)
     Dates: start: 201807
  343. HYDROCORTISONE [Suspect]
     Active Substance: HYDROCORTISONE
  344. HYDROCORTISONE [Suspect]
     Active Substance: HYDROCORTISONE
     Dosage: 8 DOSAGE FORM, QD (1 EVERY 1 DAYS)
  345. HYDROCORTISONE [Suspect]
     Active Substance: HYDROCORTISONE
  346. HYDROCORTISONE [Suspect]
     Active Substance: HYDROCORTISONE
     Dosage: 3 DOSAGE FORM, BID (2 EVERY 1 DAYS)
  347. HYDROCORTISONE [Suspect]
     Active Substance: HYDROCORTISONE
  348. HYDROCORTISONE [Suspect]
     Active Substance: HYDROCORTISONE
  349. HYDROCORTISONE [Suspect]
     Active Substance: HYDROCORTISONE
     Dosage: 4 DOSAGE FORM, QD (1 DOSAGE FORM, QD)
     Dates: start: 201807
  350. HYDROCORTISONE [Suspect]
     Active Substance: HYDROCORTISONE
     Dosage: 6 DOSAGE FORM, QD (1 DOSE PER DAY)
  351. ASACOL [Suspect]
     Active Substance: MESALAMINE
     Indication: Colitis ulcerative
     Dosage: 40 MILLIGRAM, QD (1 EVERY 1 DAYS)
  352. ASACOL [Suspect]
     Active Substance: MESALAMINE
     Dosage: 24 MILLIGRAM, QD (1 EVERY 1 DAY)
  353. ASACOL [Suspect]
     Active Substance: MESALAMINE
     Dosage: 4.8 GRAM, QD (1 EVERY 1 DAY)
     Dates: start: 20161001
  354. ASACOL [Suspect]
     Active Substance: MESALAMINE
     Dosage: 2.4 GRAM, QD (ONCE IN A DAY)
     Dates: start: 20161001
  355. ASACOL [Suspect]
     Active Substance: MESALAMINE
     Dosage: 50 MILLIGRAM, QD (1 EVERY 1 DAYS)
  356. ASACOL [Suspect]
     Active Substance: MESALAMINE
     Dosage: 3 GRAM, QD (1 EVERY 1 DAY)
     Dates: start: 20161001
  357. ASACOL [Suspect]
     Active Substance: MESALAMINE
     Dosage: 12 DOSAGE FORM, QD (1 EVERY 1 DAY)
  358. ASACOL [Suspect]
     Active Substance: MESALAMINE
     Dosage: 6 DOSAGE FORM, QD (1 EVERY 1 DAY)
     Dates: start: 20161001
  359. ASACOL [Suspect]
     Active Substance: MESALAMINE
     Dosage: 1 DOSAGE FORM, QD (1 EVERY 1 DAYS)
  360. ASACOL [Suspect]
     Active Substance: MESALAMINE
     Dosage: 6 DOSAGE FORM, QD (1 EVERY 1 DAY)
  361. ASACOL [Suspect]
     Active Substance: MESALAMINE
     Dosage: 3 DOSAGE FORM, BID (2 EVERY 1 DAY)
  362. ASACOL [Suspect]
     Active Substance: MESALAMINE
  363. ASACOL [Suspect]
     Active Substance: MESALAMINE
  364. ASACOL [Suspect]
     Active Substance: MESALAMINE
     Dosage: 6 DOSAGE FORM, QD (3 DOSAGE FORM, 2 DOSE PER 1 D)
  365. ASACOL [Suspect]
     Active Substance: MESALAMINE
  366. ASACOL [Suspect]
     Active Substance: MESALAMINE
     Dosage: 1 DOSAGE FORM, QD (1 EVERY 1 DAYS)
  367. MESALAMINE [Suspect]
     Active Substance: MESALAMINE
     Indication: Colitis ulcerative
  368. MESALAMINE [Suspect]
     Active Substance: MESALAMINE
  369. MESALAMINE [Suspect]
     Active Substance: MESALAMINE
     Dosage: 6 DOSAGE FORM, QD (1 EVERY 1 DAY)
  370. MESALAMINE [Suspect]
     Active Substance: MESALAMINE
  371. MESALAMINE [Suspect]
     Active Substance: MESALAMINE
  372. MESALAMINE [Suspect]
     Active Substance: MESALAMINE
     Dosage: 2.4 GRAM, QD (1 EVERY 1 DAY)
  373. MESALAMINE [Suspect]
     Active Substance: MESALAMINE
     Dosage: 12 DOSAGE FORM, QD (1 EVERY 1 DAY)
  374. MESALAMINE [Suspect]
     Active Substance: MESALAMINE
     Dosage: 3 GRAM, QD (1 EVERY 1 DAY)
  375. MESALAMINE [Suspect]
     Active Substance: MESALAMINE
     Dosage: 24 DOSAGE FORM, QD (1 EVERY 12 HOURS)
  376. MESALAMINE [Suspect]
     Active Substance: MESALAMINE
     Dosage: 4.8 GRAM, QD (1 EVERY 1 DAY)
  377. MESALAMINE [Suspect]
     Active Substance: MESALAMINE
     Dosage: 50 MILLIGRAM, QD (1 EVERY 1 DAY)
  378. MESALAMINE [Suspect]
     Active Substance: MESALAMINE
     Dosage: 4.8 GRAM, QD (1 EVERY 1 DAY)
  379. MESALAMINE [Suspect]
     Active Substance: MESALAMINE
     Dosage: 2.4 GRAM, QD (1 EVERY 1 DAY)
  380. MESALAMINE [Suspect]
     Active Substance: MESALAMINE
  381. MESALAMINE [Suspect]
     Active Substance: MESALAMINE
  382. MESALAMINE [Suspect]
     Active Substance: MESALAMINE
  383. MESALAMINE [Suspect]
     Active Substance: MESALAMINE
  384. MESALAMINE [Suspect]
     Active Substance: MESALAMINE
     Dosage: 1 DOSAGE FORM, QD (1 DOSE PER 1D)
  385. MESALAMINE [Suspect]
     Active Substance: MESALAMINE
     Dosage: 3 GRAM, QD (1 EVERY 1 DAY)
  386. MESALAMINE [Suspect]
     Active Substance: MESALAMINE
     Dosage: 6 DOSAGE FORM, QD (3 DOSAGE FORM, 2 DOSE PER 1D
  387. MESALAMINE [Suspect]
     Active Substance: MESALAMINE
  388. MESALAMINE [Suspect]
     Active Substance: MESALAMINE
     Dosage: 50 MILLIGRAM, QD (1 EVERY 1 DAY)
  389. MESALAMINE [Suspect]
     Active Substance: MESALAMINE
  390. MESALAMINE [Suspect]
     Active Substance: MESALAMINE
  391. MESALAMINE [Suspect]
     Active Substance: MESALAMINE
  392. MESALAMINE [Suspect]
     Active Substance: MESALAMINE
     Dosage: 1 DOSAGE FORM, QD (1 DOSE PER 1D)
  393. MESALAMINE [Suspect]
     Active Substance: MESALAMINE
  394. MESALAMINE [Suspect]
     Active Substance: MESALAMINE
  395. MESALAMINE [Suspect]
     Active Substance: MESALAMINE
     Dosage: 2.4 GRAM, QD
  396. MESALAMINE [Suspect]
     Active Substance: MESALAMINE
  397. MESALAMINE [Suspect]
     Active Substance: MESALAMINE
  398. CORTIFOAM [Suspect]
     Active Substance: HYDROCORTISONE ACETATE
     Indication: Colitis ulcerative
  399. CORTIFOAM [Suspect]
     Active Substance: HYDROCORTISONE ACETATE
     Indication: Deep vein thrombosis
  400. CORTIFOAM [Suspect]
     Active Substance: HYDROCORTISONE ACETATE
     Indication: Colitis ulcerative
  401. CORTIFOAM [Suspect]
     Active Substance: HYDROCORTISONE ACETATE
     Indication: Deep vein thrombosis
  402. CORTIFOAM [Suspect]
     Active Substance: HYDROCORTISONE ACETATE
  403. CORTIFOAM [Suspect]
     Active Substance: HYDROCORTISONE ACETATE
     Dosage: 1 DOSAGE FORM, QD
     Dates: start: 201707
  404. CORTIFOAM [Suspect]
     Active Substance: HYDROCORTISONE ACETATE
     Dosage: 1 DOSAGE FORM, QD
     Dates: start: 201707
  405. CORTIFOAM [Suspect]
     Active Substance: HYDROCORTISONE ACETATE
     Dosage: 1 DOSAGE FORM, QD (1 EVERY 1 DAYS)
  406. CORTIFOAM [Suspect]
     Active Substance: HYDROCORTISONE ACETATE
  407. CORTIFOAM [Suspect]
     Active Substance: HYDROCORTISONE ACETATE
     Dosage: 1 DOSAGE FORM, QD (1 EVERY 1 DAYS)
  408. CORTIFOAM [Suspect]
     Active Substance: HYDROCORTISONE ACETATE
  409. CORTIFOAM [Suspect]
     Active Substance: HYDROCORTISONE ACETATE
  410. CORTIFOAM [Suspect]
     Active Substance: HYDROCORTISONE ACETATE
  411. CORTIFOAM [Suspect]
     Active Substance: HYDROCORTISONE ACETATE
     Dosage: 32 DOSAGE FORM, QD(8 DOSAGE FORM, Q8WK)
     Dates: start: 201707
  412. CORTIFOAM [Suspect]
     Active Substance: HYDROCORTISONE ACETATE
  413. HYDROCORTISONE ACETATE [Suspect]
     Active Substance: HYDROCORTISONE ACETATE
     Indication: Colitis ulcerative
     Dosage: 1 DOSAGE FORM, QD
  414. HYDROCORTISONE ACETATE [Suspect]
     Active Substance: HYDROCORTISONE ACETATE
     Indication: Crohn^s disease
  415. HYDROCORTISONE ACETATE [Suspect]
     Active Substance: HYDROCORTISONE ACETATE
     Indication: Colitis ulcerative
  416. HYDROCORTISONE ACETATE [Suspect]
     Active Substance: HYDROCORTISONE ACETATE
     Dosage: 1 DOSAGE FORM
     Dates: start: 201807
  417. HYDROCORTISONE ACETATE [Suspect]
     Active Substance: HYDROCORTISONE ACETATE
  418. HYDROCORTISONE ACETATE [Suspect]
     Active Substance: HYDROCORTISONE ACETATE
  419. HYDROCORTISONE ACETATE [Suspect]
     Active Substance: HYDROCORTISONE ACETATE
  420. HYDROCORTISONE ACETATE [Suspect]
     Active Substance: HYDROCORTISONE ACETATE
     Dosage: 8 DOSAGE FORM, QD
     Dates: start: 201707
  421. HYDROCORTISONE ACETATE [Suspect]
     Active Substance: HYDROCORTISONE ACETATE
     Dosage: 1 DOSAGE FORM, QD
     Dates: start: 201707
  422. HYDROCORTISONE ACETATE [Suspect]
     Active Substance: HYDROCORTISONE ACETATE
  423. HYDROCORTISONE ACETATE [Suspect]
     Active Substance: HYDROCORTISONE ACETATE
  424. HYDROCORTISONE ACETATE [Suspect]
     Active Substance: HYDROCORTISONE ACETATE
     Dates: start: 20160101, end: 20161001
  425. CORTIFOAM [Suspect]
     Active Substance: HYDROCORTISONE ACETATE
     Indication: Colitis ulcerative
  426. CORTIFOAM [Suspect]
     Active Substance: HYDROCORTISONE ACETATE
     Indication: Deep vein thrombosis
  427. CORTIFOAM [Suspect]
     Active Substance: HYDROCORTISONE ACETATE
     Dosage: 1 DOSAGE FORM, QD
     Dates: start: 201707
  428. CORTIFOAM [Suspect]
     Active Substance: HYDROCORTISONE ACETATE
  429. CORTIFOAM [Suspect]
     Active Substance: HYDROCORTISONE ACETATE
     Dosage: 1 DOSAGE FORM, QD
     Dates: start: 201707
  430. CORTIFOAM [Suspect]
     Active Substance: HYDROCORTISONE ACETATE
  431. CORTIFOAM [Suspect]
     Active Substance: HYDROCORTISONE ACETATE
  432. HYDROCORTISONE ACETATE [Suspect]
     Active Substance: HYDROCORTISONE ACETATE
     Indication: Product used for unknown indication
  433. ALBENDAZOLE [Suspect]
     Active Substance: ALBENDAZOLE
     Indication: Colitis ulcerative
  434. ALBENDAZOLE [Suspect]
     Active Substance: ALBENDAZOLE
     Indication: Deep vein thrombosis
  435. ALBENDAZOLE [Suspect]
     Active Substance: ALBENDAZOLE
     Indication: Crohn^s disease
  436. ENTYVIO [Suspect]
     Active Substance: VEDOLIZUMAB
     Indication: Colitis ulcerative
  437. ENTYVIO [Suspect]
     Active Substance: VEDOLIZUMAB
     Indication: Deep vein thrombosis
  438. ENTYVIO [Suspect]
     Active Substance: VEDOLIZUMAB
  439. ENTYVIO [Suspect]
     Active Substance: VEDOLIZUMAB
  440. ENTYVIO [Suspect]
     Active Substance: VEDOLIZUMAB
  441. ENTYVIO [Suspect]
     Active Substance: VEDOLIZUMAB
  442. ENTYVIO [Suspect]
     Active Substance: VEDOLIZUMAB
     Dosage: 8 DOSAGE FORM
     Dates: start: 201807
  443. ENTYVIO [Suspect]
     Active Substance: VEDOLIZUMAB
  444. ENTYVIO [Suspect]
     Active Substance: VEDOLIZUMAB
  445. ENTYVIO [Suspect]
     Active Substance: VEDOLIZUMAB
  446. ENTYVIO [Suspect]
     Active Substance: VEDOLIZUMAB
     Dosage: 1 DOSAGE FORM, QD
     Dates: end: 2017
  447. ENTYVIO [Suspect]
     Active Substance: VEDOLIZUMAB
  448. ENTYVIO [Suspect]
     Active Substance: VEDOLIZUMAB
  449. ENTYVIO [Suspect]
     Active Substance: VEDOLIZUMAB
  450. ENTYVIO [Suspect]
     Active Substance: VEDOLIZUMAB
     Dosage: 1 DOSAGE FORM, QD (1 EVERY 1 DAYS)
  451. ENTYVIO [Suspect]
     Active Substance: VEDOLIZUMAB
     Dosage: 8 DOSAGE FORM, QW (ONCE IN A WEEK)
  452. ENTYVIO [Suspect]
     Active Substance: VEDOLIZUMAB
     Indication: Colitis ulcerative
  453. ENTYVIO [Suspect]
     Active Substance: VEDOLIZUMAB
     Indication: Deep vein thrombosis
  454. ENTYVIO [Suspect]
     Active Substance: VEDOLIZUMAB
  455. ENTYVIO [Suspect]
     Active Substance: VEDOLIZUMAB
  456. ENTYVIO [Suspect]
     Active Substance: VEDOLIZUMAB
  457. ENTYVIO [Suspect]
     Active Substance: VEDOLIZUMAB
  458. ENTYVIO [Suspect]
     Active Substance: VEDOLIZUMAB
     Dosage: UNK, QD (1 EVERY1 DAYS)
  459. ENTYVIO [Suspect]
     Active Substance: VEDOLIZUMAB
  460. ENTYVIO [Suspect]
     Active Substance: VEDOLIZUMAB
  461. ENTYVIO [Suspect]
     Active Substance: VEDOLIZUMAB
  462. ENTYVIO [Suspect]
     Active Substance: VEDOLIZUMAB
     Dosage: 1 DOSAGE FORM, QD (1 EVERY 1 DAYS)
  463. ENTYVIO [Suspect]
     Active Substance: VEDOLIZUMAB
  464. ENTYVIO [Suspect]
     Active Substance: VEDOLIZUMAB
  465. ENTYVIO [Suspect]
     Active Substance: VEDOLIZUMAB
  466. ENTYVIO [Suspect]
     Active Substance: VEDOLIZUMAB
  467. PREDNISONE [Suspect]
     Active Substance: PREDNISONE
     Indication: Colitis ulcerative
  468. PREDNISONE [Suspect]
     Active Substance: PREDNISONE
  469. PREDNISONE [Suspect]
     Active Substance: PREDNISONE
  470. PREDNISONE [Suspect]
     Active Substance: PREDNISONE
  471. PREDNISONE [Suspect]
     Active Substance: PREDNISONE
  472. PREDNISONE [Suspect]
     Active Substance: PREDNISONE
  473. PREDNISONE [Suspect]
     Active Substance: PREDNISONE
  474. PREDNISONE [Suspect]
     Active Substance: PREDNISONE
  475. PREDNISONE [Suspect]
     Active Substance: PREDNISONE
  476. PREDNISONE [Suspect]
     Active Substance: PREDNISONE
     Dosage: 50 MILLIGRAM, QD (1 EVERY 1 DAYS)
  477. PREDNISONE [Suspect]
     Active Substance: PREDNISONE
     Dosage: 40 MILLIGRAM, QD (1 EVERY 1 DAYS
  478. PREDNISONE [Suspect]
     Active Substance: PREDNISONE
  479. PREDNISONE [Suspect]
     Active Substance: PREDNISONE
     Dosage: 50 MILLIGRAM, QD (1 EVERY 1 DAYS)
     Dates: start: 2009, end: 2009
  480. PREDNISONE [Suspect]
     Active Substance: PREDNISONE
  481. INFLIXIMAB [Suspect]
     Active Substance: INFLIXIMAB
     Indication: Colitis ulcerative
  482. INFLIXIMAB [Suspect]
     Active Substance: INFLIXIMAB
     Indication: Crohn^s disease
  483. INFLIXIMAB [Suspect]
     Active Substance: INFLIXIMAB
  484. INFLIXIMAB [Suspect]
     Active Substance: INFLIXIMAB
     Dates: start: 20170101, end: 20170901
  485. INFLIXIMAB [Suspect]
     Active Substance: INFLIXIMAB
     Dates: start: 20170101, end: 20170901
  486. INFLIXIMAB [Suspect]
     Active Substance: INFLIXIMAB
  487. INFLIXIMAB [Suspect]
     Active Substance: INFLIXIMAB
  488. INFLIXIMAB [Suspect]
     Active Substance: INFLIXIMAB
  489. INFLIXIMAB [Suspect]
     Active Substance: INFLIXIMAB
  490. INFLIXIMAB [Suspect]
     Active Substance: INFLIXIMAB
     Dates: start: 20170101, end: 20170901
  491. INFLIXIMAB [Suspect]
     Active Substance: INFLIXIMAB
  492. INFLIXIMAB [Suspect]
     Active Substance: INFLIXIMAB
  493. INFLIXIMAB [Suspect]
     Active Substance: INFLIXIMAB
  494. INFLIXIMAB [Suspect]
     Active Substance: INFLIXIMAB
  495. INFLIXIMAB [Suspect]
     Active Substance: INFLIXIMAB
     Dates: start: 20170101, end: 20170901
  496. INFLIXIMAB [Suspect]
     Active Substance: INFLIXIMAB
  497. INFLIXIMAB [Suspect]
     Active Substance: INFLIXIMAB
  498. INFLIXIMAB [Suspect]
     Active Substance: INFLIXIMAB
  499. INFLIXIMAB [Suspect]
     Active Substance: INFLIXIMAB
  500. INFLIXIMAB [Suspect]
     Active Substance: INFLIXIMAB
  501. INFLIXIMAB [Suspect]
     Active Substance: INFLIXIMAB
  502. ESCITALOPRAM [Suspect]
     Active Substance: ESCITALOPRAM OXALATE
     Indication: Product used for unknown indication
  503. ESCITALOPRAM [Suspect]
     Active Substance: ESCITALOPRAM OXALATE
     Dosage: 10 MILLIGRAM, QD (1 EVERY 1 DAY)
  504. ESCITALOPRAM [Suspect]
     Active Substance: ESCITALOPRAM OXALATE
  505. HUMIRA [Suspect]
     Active Substance: ADALIMUMAB
     Indication: Deep vein thrombosis
  506. HUMIRA [Suspect]
     Active Substance: ADALIMUMAB
     Indication: Crohn^s disease
  507. AZD-1222 [Suspect]
     Active Substance: AZD-1222
     Indication: COVID-19 immunisation
  508. AZD-1222 [Suspect]
     Active Substance: AZD-1222
     Indication: COVID-19 immunisation
  509. HUMIRA [Suspect]
     Active Substance: ADALIMUMAB
     Indication: Deep vein thrombosis
  510. HUMIRA [Suspect]
     Active Substance: ADALIMUMAB
     Indication: Crohn^s disease
  511. HUMIRA [Suspect]
     Active Substance: ADALIMUMAB
  512. HUMIRA [Suspect]
     Active Substance: ADALIMUMAB
     Dosage: 8 DOSAGE FORM, BIMONTHLY (1 DOSE PER 8W)
  513. HUMIRA [Suspect]
     Active Substance: ADALIMUMAB
  514. HUMIRA [Suspect]
     Active Substance: ADALIMUMAB
  515. HUMIRA [Suspect]
     Active Substance: ADALIMUMAB
  516. HUMIRA [Suspect]
     Active Substance: ADALIMUMAB
  517. HUMIRA [Suspect]
     Active Substance: ADALIMUMAB
  518. CORTISONE ACETATE [Suspect]
     Active Substance: CORTISONE ACETATE
     Indication: Product used for unknown indication
  519. PARA-AMINOSALICYLIC ACID [Suspect]
     Active Substance: AMINOSALICYLIC ACID
     Indication: Colitis ulcerative
  520. PARA-AMINOSALICYLIC ACID [Suspect]
     Active Substance: AMINOSALICYLIC ACID
     Indication: Deep vein thrombosis
  521. VEDOLIZUMAB [Suspect]
     Active Substance: VEDOLIZUMAB
     Indication: Colitis ulcerative
  522. VEDOLIZUMAB [Suspect]
     Active Substance: VEDOLIZUMAB
     Indication: Deep vein thrombosis
     Dosage: 1 DOSAGE FORM, QD (1 EVERY 1 DAYS)
  523. VEDOLIZUMAB [Suspect]
     Active Substance: VEDOLIZUMAB
  524. VEDOLIZUMAB [Suspect]
     Active Substance: VEDOLIZUMAB
  525. VEDOLIZUMAB [Suspect]
     Active Substance: VEDOLIZUMAB
     Dosage: 1 DOSAGE FORM, QD
     Dates: start: 201807
  526. VEDOLIZUMAB [Suspect]
     Active Substance: VEDOLIZUMAB
  527. VEDOLIZUMAB [Suspect]
     Active Substance: VEDOLIZUMAB
  528. VEDOLIZUMAB [Suspect]
     Active Substance: VEDOLIZUMAB
  529. VEDOLIZUMAB [Suspect]
     Active Substance: VEDOLIZUMAB
  530. HYDROCORTISONE [Suspect]
     Active Substance: HYDROCORTISONE
     Indication: Colitis ulcerative
  531. HYDROCORTISONE [Suspect]
     Active Substance: HYDROCORTISONE
     Dosage: 8 DOSAGE FORM, QD (1 EVERY 1 DAYS)
  532. HYDROCORTISONE [Suspect]
     Active Substance: HYDROCORTISONE
  533. HYDROCORTISONE [Suspect]
     Active Substance: HYDROCORTISONE
     Dosage: 1 DOSAGE FORM, QD (1 EVERY 1 DAYS)
  534. VEDOLIZUMAB [Suspect]
     Active Substance: VEDOLIZUMAB
     Indication: Deep vein thrombosis
  535. VEDOLIZUMAB [Suspect]
     Active Substance: VEDOLIZUMAB
     Indication: Colitis ulcerative
  536. VEDOLIZUMAB [Suspect]
     Active Substance: VEDOLIZUMAB
  537. OXYCODONE HYDROCHLORIDE [Suspect]
     Active Substance: OXYCODONE HYDROCHLORIDE
     Indication: Product used for unknown indication
     Dosage: 5 MILLIGRAM, BID (10 MILLIGRAM DAILY)
  538. OXYCODONE HYDROCHLORIDE [Suspect]
     Active Substance: OXYCODONE HYDROCHLORIDE
  539. MESALAMINE [Suspect]
     Active Substance: MESALAMINE
     Indication: Colitis ulcerative
  540. MESALAMINE [Suspect]
     Active Substance: MESALAMINE
     Dates: start: 20170101, end: 20170901
  541. MESALAMINE [Suspect]
     Active Substance: MESALAMINE
  542. MESALAMINE [Suspect]
     Active Substance: MESALAMINE
  543. MESALAMINE [Suspect]
     Active Substance: MESALAMINE
     Dosage: 2.4 GRAM, QD, 0.8 G, 3 TABLETS TWO TIMES A DAY (4.8 G DAILY)
     Dates: start: 20161001
  544. MESALAMINE [Suspect]
     Active Substance: MESALAMINE
     Dosage: 3 DOSAGE FORM, QD
     Dates: start: 201610
  545. MESALAMINE [Suspect]
     Active Substance: MESALAMINE
  546. MESALAMINE [Suspect]
     Active Substance: MESALAMINE
     Dates: start: 20160101, end: 20161001
  547. MESALAMINE [Suspect]
     Active Substance: MESALAMINE
     Dates: start: 20170101, end: 20170901
  548. MESALAMINE [Suspect]
     Active Substance: MESALAMINE
  549. MESALAMINE [Suspect]
     Active Substance: MESALAMINE
     Dosage: 4.8 GRAM, QD
     Dates: start: 20161001
  550. MESALAMINE [Suspect]
     Active Substance: MESALAMINE
     Dosage: 3 DOSAGE FORM, BID
     Dates: start: 2016
  551. MESALAMINE [Suspect]
     Active Substance: MESALAMINE
     Dates: start: 20170101, end: 20171001
  552. MESALAMINE [Suspect]
     Active Substance: MESALAMINE
  553. MESALAMINE [Suspect]
     Active Substance: MESALAMINE
  554. MESALAMINE [Suspect]
     Active Substance: MESALAMINE
     Dosage: 50 MILLIGRAM, QD
     Dates: start: 20160101, end: 20161001
  555. MESALAMINE [Suspect]
     Active Substance: MESALAMINE
     Dates: start: 20170101, end: 20170901
  556. MESALAMINE [Suspect]
     Active Substance: MESALAMINE
     Dosage: 4.8 MILLIGRAM, QD
     Dates: start: 20161001
  557. MESALAMINE [Suspect]
     Active Substance: MESALAMINE
  558. MESALAMINE [Suspect]
     Active Substance: MESALAMINE
     Dosage: 4.8 MILLIGRAM, QD
     Dates: start: 20170101
  559. MESALAMINE [Suspect]
     Active Substance: MESALAMINE
  560. MESALAMINE [Suspect]
     Active Substance: MESALAMINE
     Dosage: 4.8 GRAM, QD
     Dates: start: 20160101, end: 201709
  561. MESALAMINE [Suspect]
     Active Substance: MESALAMINE
     Dates: start: 20160101, end: 20170901
  562. MESALAMINE [Suspect]
     Active Substance: MESALAMINE
     Dosage: 50 MILLIGRAM, QD
     Dates: start: 20160101, end: 20161001
  563. HYDROCORTISONE SODIUM SUCCINATE [Suspect]
     Active Substance: HYDROCORTISONE SODIUM SUCCINATE
     Indication: Colitis ulcerative
     Dosage: 1 DOSAGE FORM, QD
  564. HYDROCORTISONE [Suspect]
     Active Substance: HYDROCORTISONE
     Indication: Colitis ulcerative
     Dosage: 1 DOSAGE FORM, QD (1 DOSE PER 1D)
  565. HYDROCORTISONE [Suspect]
     Active Substance: HYDROCORTISONE
     Dosage: 1 DOSAGE FORM, QD (1 DOSE PER 1D)
  566. HYDROCORTISONE [Suspect]
     Active Substance: HYDROCORTISONE
     Dosage: 8 DOSAGE FORM, QW (EVERY 1 WEEK)
     Dates: start: 201707
  567. HYDROCORTISONE [Suspect]
     Active Substance: HYDROCORTISONE
     Dosage: 8 DOSAGE FORM, QW (EVERY 1 WEEK)
  568. HYDROCORTISONE [Suspect]
     Active Substance: HYDROCORTISONE
     Dosage: 1 DOSAGE FORM, BIMONTHLY (EVERY 8 WEEK)
  569. HYDROCORTISONE [Suspect]
     Active Substance: HYDROCORTISONE
     Dosage: 8 DOSAGE FORM, QD (1 EVERY 1 DAY)
  570. HYDROCORTISONE [Suspect]
     Active Substance: HYDROCORTISONE
     Dosage: 1 DOSAGE FORM, 6XW (1 DOSE PER 6W)
  571. HYDROCORTISONE [Suspect]
     Active Substance: HYDROCORTISONE
     Dosage: 8 MILLIGRAM, QW (1 DOSE PER 1W)
  572. HYDROCORTISONE [Suspect]
     Active Substance: HYDROCORTISONE
     Dosage: 6 MILLIGRAM, QW (1 DOSE PER 1W)
  573. SULFASALAZINE [Suspect]
     Active Substance: SULFASALAZINE
     Indication: Colitis ulcerative
  574. SULFASALAZINE [Suspect]
     Active Substance: SULFASALAZINE
     Indication: Arthritis
     Dosage: 3 MILLIGRAM, QD (1 EVERY 1 DAYS)
  575. SULFASALAZINE [Suspect]
     Active Substance: SULFASALAZINE
     Indication: Colitis
     Dates: start: 20091001, end: 20161001
  576. SULFASALAZINE [Suspect]
     Active Substance: SULFASALAZINE
     Dates: start: 20090101, end: 20160101
  577. SULFASALAZINE [Suspect]
     Active Substance: SULFASALAZINE
     Dates: start: 20160101, end: 20160101
  578. SULFASALAZINE [Suspect]
     Active Substance: SULFASALAZINE
     Dosage: 5 MILLIGRAM, QD (1 EVERY 1 DAY)
  579. SULFASALAZINE [Suspect]
     Active Substance: SULFASALAZINE
  580. SULFASALAZINE [Suspect]
     Active Substance: SULFASALAZINE
  581. SULFASALAZINE [Suspect]
     Active Substance: SULFASALAZINE
  582. SULFASALAZINE [Suspect]
     Active Substance: SULFASALAZINE
  583. SULFASALAZINE [Suspect]
     Active Substance: SULFASALAZINE
  584. SULFASALAZINE [Suspect]
     Active Substance: SULFASALAZINE
  585. SULFASALAZINE [Suspect]
     Active Substance: SULFASALAZINE
     Dosage: 5 MILLIGRAM, QD (1 EVERY 1 DAYS)
  586. SULFASALAZINE [Suspect]
     Active Substance: SULFASALAZINE
     Dosage: UNK, QD (1 EVERY1 DAYS)
  587. SULFASALAZINE [Suspect]
     Active Substance: SULFASALAZINE
     Dates: start: 2009, end: 2016
  588. SULFASALAZINE [Suspect]
     Active Substance: SULFASALAZINE
     Dosage: 3 MILLIGRAM, BID (2 EVERY 1 DAY)
  589. WARFARIN SODIUM [Suspect]
     Active Substance: WARFARIN SODIUM
     Indication: Deep vein thrombosis
     Dosage: 1 DOSAGE FORM, QD (1 EVERY 1 DAYS)
     Dates: start: 201707
  590. WARFARIN SODIUM [Suspect]
     Active Substance: WARFARIN SODIUM
     Indication: Colitis ulcerative
  591. WARFARIN SODIUM [Suspect]
     Active Substance: WARFARIN SODIUM
     Indication: Crohn^s disease
  592. WARFARIN SODIUM [Suspect]
     Active Substance: WARFARIN SODIUM
  593. WARFARIN SODIUM [Suspect]
     Active Substance: WARFARIN SODIUM
     Dosage: 1 DOSAGE FORM, QD (1 EVERY 1 DAYS)
     Dates: start: 2009, end: 2009
  594. WARFARIN SODIUM [Suspect]
     Active Substance: WARFARIN SODIUM
  595. WARFARIN SODIUM [Suspect]
     Active Substance: WARFARIN SODIUM
  596. AMINOSALICYLIC ACID [Suspect]
     Active Substance: AMINOSALICYLIC ACID
     Indication: Product used for unknown indication
  597. AMINOSALICYLIC ACID [Suspect]
     Active Substance: AMINOSALICYLIC ACID
  598. REMICADE [Suspect]
     Active Substance: INFLIXIMAB
     Indication: Crohn^s disease
     Dates: start: 20170101, end: 20170901
  599. REMICADE [Suspect]
     Active Substance: INFLIXIMAB
     Indication: Colitis ulcerative
  600. REMICADE [Suspect]
     Active Substance: INFLIXIMAB
     Dates: start: 20170101, end: 20170901
  601. REMICADE [Suspect]
     Active Substance: INFLIXIMAB
  602. REMICADE [Suspect]
     Active Substance: INFLIXIMAB
  603. REMICADE [Suspect]
     Active Substance: INFLIXIMAB
  604. CANDESARTAN [Suspect]
     Active Substance: CANDESARTAN
     Indication: Colitis ulcerative
  605. VYVANSE [Suspect]
     Active Substance: LISDEXAMFETAMINE DIMESYLATE
     Indication: Attention deficit hyperactivity disorder
  606. VYVANSE [Suspect]
     Active Substance: LISDEXAMFETAMINE DIMESYLATE
  607. WARFARIN SODIUM [Suspect]
     Active Substance: WARFARIN SODIUM
     Indication: Deep vein thrombosis
     Dosage: 1 DOSAGE FORM, QD (1 EVERY 1 DAYS)
  608. WARFARIN SODIUM [Suspect]
     Active Substance: WARFARIN SODIUM
     Indication: Colitis ulcerative
     Dosage: 32 DOSAGE FORM, QD (8 DOSAGE FORM 1 EVERY 8 WEEKS)
  609. WARFARIN SODIUM [Suspect]
     Active Substance: WARFARIN SODIUM
  610. WARFARIN SODIUM [Suspect]
     Active Substance: WARFARIN SODIUM
     Dosage: 8 DOSAGE FORM, QW
  611. WARFARIN SODIUM [Suspect]
     Active Substance: WARFARIN SODIUM
  612. WARFARIN SODIUM [Suspect]
     Active Substance: WARFARIN SODIUM
  613. WARFARIN SODIUM [Suspect]
     Active Substance: WARFARIN SODIUM
  614. WARFARIN SODIUM [Suspect]
     Active Substance: WARFARIN SODIUM
     Dosage: 1 DOSAGE FORM QD (1 EVERY 1 DAY)
  615. WARFARIN SODIUM [Suspect]
     Active Substance: WARFARIN SODIUM
  616. CORTIFOAM [Suspect]
     Active Substance: HYDROCORTISONE ACETATE
     Indication: Deep vein thrombosis
     Dosage: 1 DOSAGE FORM, QD (1 EVERY 1 DAYS)
     Dates: start: 201707
  617. CORTIFOAM [Suspect]
     Active Substance: HYDROCORTISONE ACETATE
     Indication: Colitis ulcerative
  618. CORTIFOAM [Suspect]
     Active Substance: HYDROCORTISONE ACETATE
  619. CORTIFOAM [Suspect]
     Active Substance: HYDROCORTISONE ACETATE
  620. CORTIFOAM [Suspect]
     Active Substance: HYDROCORTISONE ACETATE
  621. CORTIFOAM [Suspect]
     Active Substance: HYDROCORTISONE ACETATE
  622. CORTIFOAM [Suspect]
     Active Substance: HYDROCORTISONE ACETATE
     Dosage: 1 DOSAGE FORM, QD (1 EVERY 1 DAYS)
  623. CORTIFOAM [Suspect]
     Active Substance: HYDROCORTISONE ACETATE
     Dosage: UNK, BIMONTHLY  (1 DOSE PER 8W)
  624. VITAMIN D3 [Suspect]
     Active Substance: CHOLECALCIFEROL
     Indication: Product used for unknown indication
  625. VITAMIN D3 [Suspect]
     Active Substance: CHOLECALCIFEROL
  626. VITAMIN D3 [Suspect]
     Active Substance: CHOLECALCIFEROL
     Dosage: 100 MILLIGRAM, QD (1 DOSE PER DAY)
  627. CHOLECALCIFEROL [Suspect]
     Active Substance: CHOLECALCIFEROL
     Indication: Product used for unknown indication
  628. CHOLECALCIFEROL [Suspect]
     Active Substance: CHOLECALCIFEROL
  629. TOZINAMERAN [Suspect]
     Active Substance: TOZINAMERAN
     Indication: Product used for unknown indication
     Dates: start: 20220322, end: 20220322
  630. ADALIMUMAB [Suspect]
     Active Substance: ADALIMUMAB
     Indication: Crohn^s disease
  631. ADALIMUMAB [Suspect]
     Active Substance: ADALIMUMAB
     Indication: Colitis ulcerative
  632. ADALIMUMAB [Suspect]
     Active Substance: ADALIMUMAB
     Indication: Deep vein thrombosis
  633. ADALIMUMAB [Suspect]
     Active Substance: ADALIMUMAB
  634. DESOXIMETASONE [Suspect]
     Active Substance: DESOXIMETASONE
     Indication: Colitis ulcerative
     Dosage: 1 DOSAGE FORM (1 EVERY 1 DAYS)
  635. DESOXIMETASONE [Suspect]
     Active Substance: DESOXIMETASONE
     Indication: Crohn^s disease
  636. DESOXIMETASONE [Suspect]
     Active Substance: DESOXIMETASONE
     Dosage: 3 DOSAGE FORM, BID (2 EVERY 1 DAYS)
  637. DESOXIMETASONE [Suspect]
     Active Substance: DESOXIMETASONE
  638. DESOXIMETASONE [Suspect]
     Active Substance: DESOXIMETASONE
  639. DESOXIMETASONE [Suspect]
     Active Substance: DESOXIMETASONE
  640. DESOXIMETASONE [Suspect]
     Active Substance: DESOXIMETASONE
     Dosage: 1 DOSAGE FORM, QD (1 EVERY 1 DAYS)
  641. DESOXIMETASONE [Suspect]
     Active Substance: DESOXIMETASONE
     Dosage: 8 DOSAGE FORM, QD (1 EVERY 1 DAY)
  642. DESOXIMETASONE [Suspect]
     Active Substance: DESOXIMETASONE
     Dosage: 3 DOSAGE FORM, BID (2 EVERY 1 DAYS)
  643. DESOXIMETASONE [Suspect]
     Active Substance: DESOXIMETASONE
  644. DESOXIMETASONE [Suspect]
     Active Substance: DESOXIMETASONE
     Dosage: 8 DOSAGE FORM, QD
  645. DESOXIMETASONE [Suspect]
     Active Substance: DESOXIMETASONE
  646. COMIRNATY (TOZINAMERAN) [Suspect]
     Active Substance: TOZINAMERAN
     Indication: Product used for unknown indication
  647. COMIRNATY (TOZINAMERAN) [Suspect]
     Active Substance: TOZINAMERAN
  648. DAPAGLIFLOZIN [Suspect]
     Active Substance: DAPAGLIFLOZIN
     Indication: Ill-defined disorder
  649. DAPAGLIFLOZIN [Suspect]
     Active Substance: DAPAGLIFLOZIN
     Indication: Cardiac failure chronic
  650. AZD-1222 [Suspect]
     Active Substance: AZD-1222
     Indication: COVID-19 immunisation
     Dates: start: 20210423, end: 20210423
  651. AZD-1222 [Suspect]
     Active Substance: AZD-1222
  652. AZD-1222 [Suspect]
     Active Substance: AZD-1222
     Dates: start: 20210416, end: 20210416
  653. AZD-1222 [Suspect]
     Active Substance: AZD-1222
     Dates: start: 20210508, end: 20210508
  654. AZD-1222 [Suspect]
     Active Substance: AZD-1222
     Dates: start: 20210713, end: 20210713
  655. AZD-1222 [Suspect]
     Active Substance: AZD-1222
     Dates: start: 20210318, end: 20210318
  656. AZD-1222 [Suspect]
     Active Substance: AZD-1222
     Dates: start: 20210130, end: 20210130
  657. AZD-1222 [Suspect]
     Active Substance: AZD-1222
     Dates: start: 20210319, end: 20210319
  658. AZD-1222 [Suspect]
     Active Substance: AZD-1222
     Dates: start: 20210204, end: 20210204
  659. AZD-1222 [Suspect]
     Active Substance: AZD-1222
     Dates: start: 20210215, end: 20210215
  660. AZD-1222 [Suspect]
     Active Substance: AZD-1222
     Dates: start: 20210521, end: 20210521
  661. AZD-1222 [Suspect]
     Active Substance: AZD-1222
  662. AZD-1222 [Suspect]
     Active Substance: AZD-1222
  663. AZD-1222 [Suspect]
     Active Substance: AZD-1222
  664. AZD-1222 [Suspect]
     Active Substance: AZD-1222
  665. AZD-1222 [Suspect]
     Active Substance: AZD-1222
  666. AZD-1222 [Suspect]
     Active Substance: AZD-1222
     Dates: start: 20210204, end: 20210204
  667. AZD-1222 [Suspect]
     Active Substance: AZD-1222
     Dates: start: 20210423, end: 20210423
  668. AZD-1222 [Suspect]
     Active Substance: AZD-1222
     Dates: start: 20210204, end: 20210204
  669. MEBEVERINE HYDROCHLORIDE [Suspect]
     Active Substance: MEBEVERINE HYDROCHLORIDE
     Indication: Product used for unknown indication
  670. MEBEVERINE HYDROCHLORIDE [Suspect]
     Active Substance: MEBEVERINE HYDROCHLORIDE
  671. MEBEVERINE HYDROCHLORIDE [Suspect]
     Active Substance: MEBEVERINE HYDROCHLORIDE
  672. MEBEVERINE HYDROCHLORIDE [Suspect]
     Active Substance: MEBEVERINE HYDROCHLORIDE
     Dosage: 200 MILLIGRAM, BID (2 DOSE PER 1DAY)
  673. MEBEVERINE HYDROCHLORIDE [Suspect]
     Active Substance: MEBEVERINE HYDROCHLORIDE
     Dosage: 200 MILLIGRAM, BID (2 DOSE PER 1DAY)
  674. OMEPRAZOLE [Suspect]
     Active Substance: OMEPRAZOLE
     Indication: Gastritis
  675. OMEPRAZOLE [Suspect]
     Active Substance: OMEPRAZOLE
  676. OMEPRAZOLE [Suspect]
     Active Substance: OMEPRAZOLE
     Dosage: 40 MILLIGRAM, QD (1 EVERY 1 DAYS)
  677. ESOMEPRAZOLE [Suspect]
     Active Substance: ESOMEPRAZOLE
     Indication: Gastritis
  678. LISDEXAMFETAMINE DIMESYLATE [Suspect]
     Active Substance: LISDEXAMFETAMINE DIMESYLATE
     Indication: Product used for unknown indication
  679. PANADOL [Suspect]
     Active Substance: ACETAMINOPHEN
     Indication: Ill-defined disorder
     Dosage: 500 MILLIGRAM, QID (4 DOSE PER 1 D)
  680. FUROSEMIDE [Suspect]
     Active Substance: FUROSEMIDE
     Indication: Product used for unknown indication
  681. FUROSEMIDE [Suspect]
     Active Substance: FUROSEMIDE
     Dosage: 20 MILLIGRAM, QD (1 DOSE PER DAY)
  682. HUMIRA [Suspect]
     Active Substance: ADALIMUMAB
     Indication: Deep vein thrombosis
  683. HUMIRA [Suspect]
     Active Substance: ADALIMUMAB
     Indication: Crohn^s disease
  684. WARFARIN SODIUM [Suspect]
     Active Substance: WARFARIN SODIUM
     Indication: Deep vein thrombosis
  685. HYDROCORTISONE ACETATE [Suspect]
     Active Substance: HYDROCORTISONE ACETATE
     Indication: Colitis ulcerative
  686. PREDNISONE [Suspect]
     Active Substance: PREDNISONE
     Indication: Colitis ulcerative
  687. CHOLECALCIFEROL [Suspect]
     Active Substance: CHOLECALCIFEROL
     Indication: Product used for unknown indication
  688. PARA-AMINOSALICYLIC ACID [Suspect]
     Active Substance: AMINOSALICYLIC ACID
     Indication: Deep vein thrombosis
  689. PARA-AMINOSALICYLIC ACID [Suspect]
     Active Substance: AMINOSALICYLIC ACID
     Indication: Colitis ulcerative
  690. OMEPRAZOLE [Suspect]
     Active Substance: OMEPRAZOLE
     Indication: Gastritis
  691. OMEPRAZOLE [Suspect]
     Active Substance: OMEPRAZOLE
     Dosage: 20 MILLIGRAM, BID (2 EVERY 1 DAY)
  692. CORTIFOAM [Suspect]
     Active Substance: HYDROCORTISONE ACETATE
     Indication: Colitis ulcerative
  693. CORTIFOAM [Suspect]
     Active Substance: HYDROCORTISONE ACETATE
  694. CORTIFOAM [Suspect]
     Active Substance: HYDROCORTISONE ACETATE
     Dosage: 1 DOSAGE FORM, QD (DAILY)
  695. CORTIFOAM [Suspect]
     Active Substance: HYDROCORTISONE ACETATE
  696. ADALIMUMAB [Suspect]
     Active Substance: ADALIMUMAB
     Indication: Crohn^s disease
  697. ADALIMUMAB [Suspect]
     Active Substance: ADALIMUMAB
     Indication: Colitis ulcerative
  698. ADALIMUMAB [Suspect]
     Active Substance: ADALIMUMAB
     Indication: Deep vein thrombosis
  699. MESALAMINE [Suspect]
     Active Substance: MESALAMINE
     Indication: Colitis ulcerative
     Dosage: 6 DOSAGE FORM, QD
     Dates: start: 20161001
  700. MESALAMINE [Suspect]
     Active Substance: MESALAMINE
     Dosage: 2.4 GRAM, QD
     Dates: start: 20161001
  701. MESALAMINE [Suspect]
     Active Substance: MESALAMINE
     Dates: start: 2017, end: 201709
  702. MESALAMINE [Suspect]
     Active Substance: MESALAMINE
     Dosage: 3 DOSAGE FORM, BID
     Dates: start: 201610
  703. MESALAMINE [Suspect]
     Active Substance: MESALAMINE
     Dates: start: 20170101, end: 20170901
  704. MESALAMINE [Suspect]
     Active Substance: MESALAMINE
     Dates: start: 20160101, end: 20161001
  705. MESALAMINE [Suspect]
     Active Substance: MESALAMINE
     Dosage: 4.8 GRAM, QD
     Dates: start: 20161001
  706. MESALAMINE [Suspect]
     Active Substance: MESALAMINE
  707. MESALAMINE [Suspect]
     Active Substance: MESALAMINE
  708. MESALAMINE [Suspect]
     Active Substance: MESALAMINE
  709. MESALAMINE [Suspect]
     Active Substance: MESALAMINE
  710. MESALAMINE [Suspect]
     Active Substance: MESALAMINE
  711. MESALAMINE [Suspect]
     Active Substance: MESALAMINE
  712. MESALAMINE [Suspect]
     Active Substance: MESALAMINE
  713. MESALAMINE [Suspect]
     Active Substance: MESALAMINE
  714. MESALAMINE [Suspect]
     Active Substance: MESALAMINE
     Dosage: 6 DOSAGE FORM, QD
  715. MESALAMINE [Suspect]
     Active Substance: MESALAMINE
  716. MESALAMINE [Suspect]
     Active Substance: MESALAMINE
     Dosage: 4.8 GRAM, QD (1 EVERY 1 DAY)
  717. MESALAMINE [Suspect]
     Active Substance: MESALAMINE
  718. MESALAMINE [Suspect]
     Active Substance: MESALAMINE
  719. MESALAMINE [Suspect]
     Active Substance: MESALAMINE
     Dosage: 3 DOSAGE FORM, BID (2 EVERY 1 DAY)
  720. INFLIXIMAB [Suspect]
     Active Substance: INFLIXIMAB
     Indication: Colitis ulcerative
  721. INFLIXIMAB [Suspect]
     Active Substance: INFLIXIMAB
     Indication: Crohn^s disease
  722. INFLIXIMAB [Suspect]
     Active Substance: INFLIXIMAB
  723. INFLIXIMAB [Suspect]
     Active Substance: INFLIXIMAB
  724. INFLIXIMAB [Suspect]
     Active Substance: INFLIXIMAB
     Dosage: UNK, Q2W (1 EVERY 2 WEEKS)
  725. INFLIXIMAB [Suspect]
     Active Substance: INFLIXIMAB
  726. INFLIXIMAB [Suspect]
     Active Substance: INFLIXIMAB
  727. INFLIXIMAB [Suspect]
     Active Substance: INFLIXIMAB
  728. INFLIXIMAB [Suspect]
     Active Substance: INFLIXIMAB
     Dosage: UNK, Q2W (1 EVERY 2 WEEKS)
  729. INFLIXIMAB [Suspect]
     Active Substance: INFLIXIMAB
  730. INFLIXIMAB [Suspect]
     Active Substance: INFLIXIMAB
  731. INFLIXIMAB [Suspect]
     Active Substance: INFLIXIMAB
  732. INFLIXIMAB [Suspect]
     Active Substance: INFLIXIMAB
  733. INFLIXIMAB [Suspect]
     Active Substance: INFLIXIMAB
  734. INFLIXIMAB [Suspect]
     Active Substance: INFLIXIMAB
  735. INFLIXIMAB [Suspect]
     Active Substance: INFLIXIMAB
  736. INFLIXIMAB [Suspect]
     Active Substance: INFLIXIMAB
  737. INFLIXIMAB [Suspect]
     Active Substance: INFLIXIMAB
  738. INFLIXIMAB [Suspect]
     Active Substance: INFLIXIMAB
  739. CORTISONE [Suspect]
     Active Substance: CORTISONE
     Indication: Crohn^s disease
     Dosage: 8 DOSAGE FORM, QD (8 DOSAGE FORM, 1 EVERY 1 DAYS)
  740. CORTISONE [Suspect]
     Active Substance: CORTISONE
     Indication: Colitis ulcerative
  741. CORTISONE [Suspect]
     Active Substance: CORTISONE
  742. CORTISONE [Suspect]
     Active Substance: CORTISONE
     Dosage: 1 DOSAGE FORM, QD (1 DOSAGE 1 EVERY 1 DAY)
  743. CORTISONE [Suspect]
     Active Substance: CORTISONE
  744. CORTISONE [Suspect]
     Active Substance: CORTISONE
     Dosage: UNK, QD (1 EVERY1 DAYS)
  745. CORTISONE [Suspect]
     Active Substance: CORTISONE
  746. CORTISONE [Suspect]
     Active Substance: CORTISONE
  747. CORTISONE [Suspect]
     Active Substance: CORTISONE
     Dosage: 8 DOSAGE FORM, BIMONTHLY (1 DOSE PER 8W)
  748. CORTISONE [Suspect]
     Active Substance: CORTISONE
     Dosage: 8 MILLIGRAM, QW (1 DOSE PER 1W)
  749. CORTISONE [Suspect]
     Active Substance: CORTISONE
     Dosage: 6 MILLIGRAM, QW (1 DOSE PER 1W)
  750. MESALAMINE [Suspect]
     Active Substance: MESALAMINE
     Indication: Colitis ulcerative
     Dosage: 6 DOSAGE FORM, QD
     Dates: start: 20161001
  751. MESALAMINE [Suspect]
     Active Substance: MESALAMINE
     Dosage: 6 DOSAGE FORM, QD (3 DOSAGE FORM, BID)
     Dates: start: 201610
  752. ROSUVASTATIN [Suspect]
     Active Substance: ROSUVASTATIN
     Indication: Blood cholesterol increased
     Dosage: 10 MILLIGRAM, QD
  753. LEVOTHYROXINE SODIUM [Suspect]
     Active Substance: LEVOTHYROXINE SODIUM
     Indication: Product used for unknown indication
  754. ALBENDAZOLE [Suspect]
     Active Substance: ALBENDAZOLE
     Indication: Deep vein thrombosis
  755. ALBENDAZOLE [Suspect]
     Active Substance: ALBENDAZOLE
     Indication: Colitis ulcerative
  756. VEDOLIZUMAB [Suspect]
     Active Substance: VEDOLIZUMAB
     Indication: Colitis ulcerative
     Dosage: 1 DOSAGE FORM, QD
     Dates: start: 2017, end: 2017
  757. VEDOLIZUMAB [Suspect]
     Active Substance: VEDOLIZUMAB
     Indication: Deep vein thrombosis
  758. WARFARIN [Suspect]
     Active Substance: WARFARIN
     Indication: Product used for unknown indication
  759. VEDOLIZUMAB [Suspect]
     Active Substance: VEDOLIZUMAB
     Indication: Colitis ulcerative
  760. VEDOLIZUMAB [Suspect]
     Active Substance: VEDOLIZUMAB
     Indication: Deep vein thrombosis
  761. VEDOLIZUMAB [Suspect]
     Active Substance: VEDOLIZUMAB
  762. VEDOLIZUMAB [Suspect]
     Active Substance: VEDOLIZUMAB
  763. VEDOLIZUMAB [Suspect]
     Active Substance: VEDOLIZUMAB
  764. INFLIXIMAB [Suspect]
     Active Substance: INFLIXIMAB
     Indication: Crohn^s disease
  765. INFLIXIMAB [Suspect]
     Active Substance: INFLIXIMAB
     Indication: Colitis ulcerative
  766. INFLIXIMAB [Suspect]
     Active Substance: INFLIXIMAB
  767. INFLIXIMAB [Suspect]
     Active Substance: INFLIXIMAB
  768. INFLIXIMAB [Suspect]
     Active Substance: INFLIXIMAB
  769. INFLIXIMAB [Suspect]
     Active Substance: INFLIXIMAB
  770. INFLIXIMAB [Suspect]
     Active Substance: INFLIXIMAB
  771. INFLIXIMAB [Suspect]
     Active Substance: INFLIXIMAB
     Dates: start: 20170101, end: 20170901
  772. INFLIXIMAB [Suspect]
     Active Substance: INFLIXIMAB
  773. INFLIXIMAB [Suspect]
     Active Substance: INFLIXIMAB
     Dates: start: 20170101, end: 20170901
  774. INFLIXIMAB [Suspect]
     Active Substance: INFLIXIMAB
     Dosage: UNK, 6XW (1 DOSE PER 6W)
  775. INFLIXIMAB [Suspect]
     Active Substance: INFLIXIMAB
     Dosage: 120 MILLIGRAM, BIWEEKLY (1 DOSE PER 8 W)
  776. INFLIXIMAB [Suspect]
     Active Substance: INFLIXIMAB
     Dosage: 8 DOSAGE FORM, BIMONTHLY (1 DOSE PER 8W)
  777. INFLIXIMAB [Suspect]
     Active Substance: INFLIXIMAB
  778. INFLIXIMAB [Suspect]
     Active Substance: INFLIXIMAB
  779. OXYCODONE [Suspect]
     Active Substance: OXYCODONE
     Indication: Product used for unknown indication
  780. OXYCODONE [Suspect]
     Active Substance: OXYCODONE
     Dosage: 5 MILLIGRAM, BID (2 DOSES PER DAY)
  781. INFLECTRA [Suspect]
     Active Substance: INFLIXIMAB-DYYB
     Indication: Crohn^s disease
  782. INFLECTRA [Suspect]
     Active Substance: INFLIXIMAB-DYYB
     Indication: Colitis ulcerative
  783. INFLECTRA [Suspect]
     Active Substance: INFLIXIMAB-DYYB
  784. INFLECTRA [Suspect]
     Active Substance: INFLIXIMAB-DYYB
  785. INFLECTRA [Suspect]
     Active Substance: INFLIXIMAB-DYYB
  786. INFLECTRA [Suspect]
     Active Substance: INFLIXIMAB-DYYB
  787. INFLECTRA [Suspect]
     Active Substance: INFLIXIMAB-DYYB
  788. INFLECTRA [Suspect]
     Active Substance: INFLIXIMAB-DYYB
  789. INFLECTRA [Suspect]
     Active Substance: INFLIXIMAB-DYYB
  790. INFLECTRA [Suspect]
     Active Substance: INFLIXIMAB-DYYB
  791. INFLECTRA [Suspect]
     Active Substance: INFLIXIMAB-DYYB
  792. CANDESARTAN [Suspect]
     Active Substance: CANDESARTAN
     Indication: Colitis ulcerative
  793. LISDEXAMFETAMINE DIMESYLATE [Suspect]
     Active Substance: LISDEXAMFETAMINE DIMESYLATE
     Indication: Product used for unknown indication
  794. VEDOLIZUMAB [Suspect]
     Active Substance: VEDOLIZUMAB
     Indication: Colitis ulcerative
     Dosage: 1 DOSAGE FORM, QD (1 DOSE PER DAY)
  795. VEDOLIZUMAB [Suspect]
     Active Substance: VEDOLIZUMAB
     Indication: Deep vein thrombosis
     Dosage: 8 DOSAGE FORM, BIMONTHLY (1 DOSE PER 8W)
  796. VEDOLIZUMAB [Suspect]
     Active Substance: VEDOLIZUMAB
  797. RIVAROXABAN [Concomitant]
     Active Substance: RIVAROXABAN
     Indication: Ill-defined disorder
  798. Cortiment [Concomitant]
     Indication: Colitis ulcerative
  799. METHOTREXATE [Concomitant]
     Active Substance: METHOTREXATE
     Indication: Colitis ulcerative
     Dates: start: 20090101, end: 20160101
  800. METHOTREXATE [Concomitant]
     Active Substance: METHOTREXATE
     Dates: start: 20090101, end: 20160101
  801. METHOTREXATE [Concomitant]
     Active Substance: METHOTREXATE
     Dates: start: 201709, end: 201709
  802. METHOTREXATE [Concomitant]
     Active Substance: METHOTREXATE
  803. METHOTREXATE [Concomitant]
     Active Substance: METHOTREXATE
  804. METHOTREXATE [Concomitant]
     Active Substance: METHOTREXATE
  805. METHOTREXATE [Concomitant]
     Active Substance: METHOTREXATE
  806. METHOTREXATE [Concomitant]
     Active Substance: METHOTREXATE
  807. METHOTREXATE [Concomitant]
     Active Substance: METHOTREXATE
  808. METHOTREXATE [Concomitant]
     Active Substance: METHOTREXATE
  809. METHOTREXATE [Concomitant]
     Active Substance: METHOTREXATE
  810. HUMIRA [Concomitant]
     Active Substance: ADALIMUMAB
     Indication: Crohn^s disease
  811. HUMIRA [Concomitant]
     Active Substance: ADALIMUMAB
     Indication: Deep vein thrombosis
  812. HUMIRA [Concomitant]
     Active Substance: ADALIMUMAB
     Indication: Colitis ulcerative
  813. HUMIRA [Concomitant]
     Active Substance: ADALIMUMAB
  814. HUMIRA [Concomitant]
     Active Substance: ADALIMUMAB
  815. PREDNISONE [Concomitant]
     Active Substance: PREDNISONE
     Indication: Colitis ulcerative
  816. PREDNISONE [Concomitant]
     Active Substance: PREDNISONE
     Dosage: 40 MILLIGRAM, QD
  817. XELJANZ [Concomitant]
     Active Substance: TOFACITINIB CITRATE
     Indication: Colitis ulcerative
     Dosage: 10 MILLIGRAM, QD, (5MG BID)
  818. XELJANZ [Concomitant]
     Active Substance: TOFACITINIB CITRATE
     Dosage: 5 MILLIGRAM, BID
  819. XELJANZ [Concomitant]
     Active Substance: TOFACITINIB CITRATE
     Dosage: 10 MILLIGRAM, QD, (5MG BID)
  820. XELJANZ [Concomitant]
     Active Substance: TOFACITINIB CITRATE
     Dosage: 10 MILLIGRAM, BID (2 DOSE PER DAY)
  821. XELJANZ [Concomitant]
     Active Substance: TOFACITINIB CITRATE
     Dosage: 10 MILLIGRAM, QD (1 DOSE PER DAY)
  822. XELJANZ [Concomitant]
     Active Substance: TOFACITINIB CITRATE
     Dosage: 5 MILLIGRAM, QD (1 DOSE PER DAY)
  823. XELJANZ [Concomitant]
     Active Substance: TOFACITINIB CITRATE
  824. TOFACITINIB CITRATE [Concomitant]
     Active Substance: TOFACITINIB CITRATE
     Indication: Ill-defined disorder
  825. HYDROCORTISONE [Concomitant]
     Active Substance: HYDROCORTISONE
     Indication: Colitis ulcerative
     Dosage: 1 DOSAGE FORM, QD
  826. MESALAMINE [Concomitant]
     Active Substance: MESALAMINE
     Indication: Colitis ulcerative
  827. ALBENDAZOLE [Concomitant]
     Active Substance: ALBENDAZOLE
     Indication: Crohn^s disease
  828. ALBENDAZOLE [Concomitant]
     Active Substance: ALBENDAZOLE
     Indication: Colitis ulcerative
     Dates: start: 20090101, end: 20160101
  829. ALBENDAZOLE [Concomitant]
     Active Substance: ALBENDAZOLE
     Indication: Deep vein thrombosis
  830. POLYETHYLENE GLYCOL 3350\POTASSIUM CHLORIDE\SODIUM BICARBONATE\SODIUM [Concomitant]
     Active Substance: POLYETHYLENE GLYCOL 3350\POTASSIUM CHLORIDE\SODIUM BICARBONATE\SODIUM CHLORIDE
  831. Zerobase [Concomitant]
  832. BETNOVATE [Concomitant]
     Active Substance: BETAMETHASONE
  833. LYRICA [Concomitant]
     Active Substance: PREGABALIN
     Indication: Ill-defined disorder
  834. GAVISCON [Concomitant]
     Active Substance: ALUMINUM HYDROXIDE\MAGNESIUM CARBONATE
  835. Rennie [Concomitant]
  836. CALCIUM CARBONATE\CHOLECALCIFEROL [Concomitant]
     Active Substance: CALCIUM CARBONATE\CHOLECALCIFEROL
  837. LATANOPROST [Concomitant]
     Active Substance: LATANOPROST
  838. MOVICOL [Concomitant]
     Active Substance: POLYETHYLENE GLYCOL 3350\POTASSIUM CHLORIDE\SODIUM BICARBONATE\SODIUM CHLORIDE
  839. ATORVASTATIN [Concomitant]
     Active Substance: ATORVASTATIN
  840. ROSUVASTATIN [Concomitant]
     Active Substance: ROSUVASTATIN
     Indication: Ill-defined disorder
  841. ROSUVASTATIN [Concomitant]
     Active Substance: ROSUVASTATIN
     Indication: Blood cholesterol increased
     Dosage: 10 MILLIGRAM, QD
  842. ROSUVASTATIN [Concomitant]
     Active Substance: ROSUVASTATIN
  843. AMLODIPINE [Concomitant]
     Active Substance: AMLODIPINE BESYLATE
  844. EMPAGLIFLOZIN [Concomitant]
     Active Substance: EMPAGLIFLOZIN
     Indication: Ill-defined disorder
  845. LATANOPROST [Concomitant]
     Active Substance: LATANOPROST
     Indication: Crohn^s disease
  846. LATANOPROST [Concomitant]
     Active Substance: LATANOPROST
  847. LATANOPROST [Concomitant]
     Active Substance: LATANOPROST
  848. FESOTERODINE FUMARATE [Concomitant]
     Active Substance: FESOTERODINE FUMARATE
  849. LANSOPRAZOLE [Concomitant]
     Active Substance: LANSOPRAZOLE
     Indication: Ill-defined disorder
  850. BISOPROLOL [Concomitant]
     Active Substance: BISOPROLOL
     Indication: Ill-defined disorder
  851. BISOPROLOL [Concomitant]
     Active Substance: BISOPROLOL
     Indication: Dyscalculia
  852. DORZOLAMIDE HYDROCHLORIDE [Concomitant]
     Active Substance: DORZOLAMIDE HYDROCHLORIDE
     Indication: Ill-defined disorder
  853. ACETAMINOPHEN [Concomitant]
     Active Substance: ACETAMINOPHEN
  854. OMEPRAZOLE [Concomitant]
     Active Substance: OMEPRAZOLE
  855. RAMIPRIL [Concomitant]
     Active Substance: RAMIPRIL
     Indication: Ill-defined disorder
  856. TETRAHYDROZOLINE HYDROCHLORIDE [Concomitant]
     Active Substance: TETRAHYDROZOLINE HYDROCHLORIDE
  857. TAMSULOSIN HYDROCHLORIDE [Concomitant]
     Active Substance: TAMSULOSIN HYDROCHLORIDE
     Indication: Ill-defined disorder
  858. PRAVASTATIN [Concomitant]
     Active Substance: PRAVASTATIN
     Indication: Ill-defined disorder
  859. DAPAGLIFLOZIN [Concomitant]
     Active Substance: DAPAGLIFLOZIN
  860. NITROFURANTOIN [Concomitant]
     Active Substance: NITROFURANTOIN
     Indication: Ill-defined disorder
  861. FOLIC ACID [Concomitant]
     Active Substance: FOLIC ACID
     Indication: Ill-defined disorder
  862. SULFASALAZINE [Concomitant]
     Active Substance: SULFASALAZINE
     Indication: Colitis ulcerative
     Dates: start: 2009, end: 2016
  863. SULFASALAZINE [Concomitant]
     Active Substance: SULFASALAZINE
     Indication: Arthritis
     Dates: start: 20160101, end: 20160101
  864. SULFASALAZINE [Concomitant]
     Active Substance: SULFASALAZINE
     Indication: Colitis ulcerative
     Dates: start: 20090101, end: 20160101
  865. SULFASALAZINE [Concomitant]
     Active Substance: SULFASALAZINE
     Indication: Product used for unknown indication
     Dates: start: 201709, end: 201709
  866. SULFASALAZINE [Concomitant]
     Active Substance: SULFASALAZINE
     Dates: start: 20091001, end: 20161001
  867. SULFASALAZINE [Concomitant]
     Active Substance: SULFASALAZINE
  868. SULFASALAZINE [Concomitant]
     Active Substance: SULFASALAZINE
  869. CLOBETASONE BUTYRATE [Concomitant]
     Active Substance: CLOBETASONE BUTYRATE
     Indication: Ill-defined disorder
  870. CITALOPRAM [Concomitant]
     Active Substance: CITALOPRAM
     Indication: Ill-defined disorder
  871. ACETAMINOPHEN [Concomitant]
     Active Substance: ACETAMINOPHEN
     Indication: Ill-defined disorder
  872. SULFASALAZINE [Concomitant]
     Active Substance: SULFASALAZINE
     Indication: Colitis ulcerative
     Dosage: 3 MILLIGRAM, QD
  873. SULFASALAZINE [Concomitant]
     Active Substance: SULFASALAZINE
     Dosage: 5 MILLIGRAM, QD
  874. SULFASALAZINE [Concomitant]
     Active Substance: SULFASALAZINE
  875. AMLODIPINE BESYLATE [Concomitant]
     Active Substance: AMLODIPINE BESYLATE
  876. POLYETHYLENE GLYCOL 3350\POTASSIUM CHLORIDE\SODIUM BICARBONATE\SODIUM [Concomitant]
     Active Substance: POLYETHYLENE GLYCOL 3350\POTASSIUM CHLORIDE\SODIUM BICARBONATE\SODIUM CHLORIDE
     Indication: Ill-defined disorder
  877. ATORVASTATIN CALCIUM [Concomitant]
     Active Substance: ATORVASTATIN CALCIUM
  878. ASPIRIN [Concomitant]
     Active Substance: ASPIRIN
  879. CALCIUM CARBONATE\SODIUM ALGINATE\SODIUM BICARBONATE [Concomitant]
     Active Substance: CALCIUM CARBONATE\SODIUM ALGINATE\SODIUM BICARBONATE
  880. MINERAL OIL [Concomitant]
     Active Substance: MINERAL OIL
     Indication: Ill-defined disorder
  881. NAPHAZOLINE HYDROCHLORIDE [Concomitant]
     Active Substance: NAPHAZOLINE HYDROCHLORIDE
     Indication: Ill-defined disorder
  882. Alginic acid;Aluminium hydroxide gel, dried [Concomitant]
     Indication: Ill-defined disorder
  883. Alginic acid;Aluminium hydroxide gel, dried [Concomitant]
  884. HUMIRA [Concomitant]
     Active Substance: ADALIMUMAB
     Indication: Crohn^s disease
  885. HUMIRA [Concomitant]
     Active Substance: ADALIMUMAB
     Indication: Deep vein thrombosis
  886. HUMIRA [Concomitant]
     Active Substance: ADALIMUMAB
     Indication: Colitis ulcerative
  887. AMLODIPINE BESYLATE [Concomitant]
     Active Substance: AMLODIPINE BESYLATE
  888. Rennie [Concomitant]
  889. ALUMINUM HYDROXIDE GEL [Concomitant]
     Active Substance: ALGELDRATE
  890. SODIUM ALGINATE [Concomitant]
     Active Substance: SODIUM ALGINATE
  891. CALCIUM CARBONATE\CHOLECALCIFEROL [Concomitant]
     Active Substance: CALCIUM CARBONATE\CHOLECALCIFEROL
  892. Aluminium hydroxide;Calcium carbonate;Sodium alginate;Sodium bicarbona [Concomitant]
  893. POLYETHYLENE GLYCOLS [Concomitant]
     Active Substance: POLYETHYLENE GLYCOLS
  894. PARAFFIN [Concomitant]
     Active Substance: PARAFFIN
  895. TETRAHYDROZOLINE HYDROCHLORIDE [Concomitant]
     Active Substance: TETRAHYDROZOLINE HYDROCHLORIDE
     Indication: Crohn^s disease
  896. TETRAHYDROZOLINE HYDROCHLORIDE [Concomitant]
     Active Substance: TETRAHYDROZOLINE HYDROCHLORIDE
     Indication: Colitis ulcerative
  897. ATORVASTATIN CALCIUM [Concomitant]
     Active Substance: ATORVASTATIN CALCIUM
  898. CALCIUM CARBONATE\CHOLECALCIFEROL [Concomitant]
     Active Substance: CALCIUM CARBONATE\CHOLECALCIFEROL
  899. CITALOPRAM HYDROBROMIDE [Concomitant]
     Active Substance: CITALOPRAM HYDROBROMIDE
  900. FESOTERODINE FUMARATE [Concomitant]
     Active Substance: FESOTERODINE FUMARATE
  901. LATANOPROST [Concomitant]
     Active Substance: LATANOPROST
     Indication: Crohn^s disease
  902. RIVAROXABAN [Concomitant]
     Active Substance: RIVAROXABAN
     Indication: Ill-defined disorder
  903. Calcium carbonate;Magnesium carbonate [Concomitant]
  904. ACETAMINOPHEN\CAFFEINE [Concomitant]
     Active Substance: ACETAMINOPHEN\CAFFEINE
  905. MEBEVERINE HYDROCHLORIDE [Concomitant]
     Active Substance: MEBEVERINE HYDROCHLORIDE

REACTIONS (53)
  - Loss of personal independence in daily activities [Unknown]
  - Deep vein thrombosis [Unknown]
  - Bronchiectasis [Not Recovered/Not Resolved]
  - Impaired quality of life [Unknown]
  - Colitis ulcerative [Unknown]
  - Condition aggravated [Unknown]
  - Rectal haemorrhage [Unknown]
  - Haematochezia [Not Recovered/Not Resolved]
  - Impaired work ability [Not Recovered/Not Resolved]
  - Frequent bowel movements [Not Recovered/Not Resolved]
  - Steroid dependence [Not Recovered/Not Resolved]
  - Stress [Not Recovered/Not Resolved]
  - Abdominal discomfort [Not Recovered/Not Resolved]
  - Burns second degree [Not Recovered/Not Resolved]
  - Cardiac murmur [Not Recovered/Not Resolved]
  - Catarrh [Not Recovered/Not Resolved]
  - Cerebrovascular accident [Not Recovered/Not Resolved]
  - Arthritis [Not Recovered/Not Resolved]
  - Confusional state [Not Recovered/Not Resolved]
  - COVID-19 [Not Recovered/Not Resolved]
  - Depression [Not Recovered/Not Resolved]
  - Dysgeusia [Not Recovered/Not Resolved]
  - Eczema [Not Recovered/Not Resolved]
  - Gingival pain [Not Recovered/Not Resolved]
  - Pain in extremity [Not Recovered/Not Resolved]
  - Hypopnoea [Not Recovered/Not Resolved]
  - Migraine [Not Recovered/Not Resolved]
  - Nightmare [Not Recovered/Not Resolved]
  - Tubulointerstitial nephritis [Not Recovered/Not Resolved]
  - Swollen tongue [Not Recovered/Not Resolved]
  - Systemic lupus erythematosus [Not Recovered/Not Resolved]
  - Adverse drug reaction [Not Recovered/Not Resolved]
  - Parosmia [Not Recovered/Not Resolved]
  - Alcohol poisoning [Not Recovered/Not Resolved]
  - Pulmonary embolism [Not Recovered/Not Resolved]
  - Vertigo [Not Recovered/Not Resolved]
  - Weight decreased [Not Recovered/Not Resolved]
  - Rash [Not Recovered/Not Resolved]
  - Palpitations [Not Recovered/Not Resolved]
  - Pain [Not Recovered/Not Resolved]
  - Fatigue [Not Recovered/Not Resolved]
  - Pyrexia [Not Recovered/Not Resolved]
  - Rhinitis [Not Recovered/Not Resolved]
  - Somnolence [Not Recovered/Not Resolved]
  - Tinnitus [Not Recovered/Not Resolved]
  - Headache [Not Recovered/Not Resolved]
  - Product use in unapproved indication [Not Recovered/Not Resolved]
  - Off label use [Not Recovered/Not Resolved]
  - Medication error [Not Recovered/Not Resolved]
  - Drug ineffective [Unknown]
  - Intentional product use issue [Not Recovered/Not Resolved]
  - Inappropriate schedule of product administration [Not Recovered/Not Resolved]
  - Accidental overdose [Not Recovered/Not Resolved]

NARRATIVE: CASE EVENT DATE: 20080101
